FAERS Safety Report 22093419 (Version 1)
Quarter: 2023Q1

REPORT INFORMATION
  Report Type: Report from Study
  Country: GB (occurrence: GB)
  Receive Date: 20230314
  Receipt Date: 20230314
  Transmission Date: 20230417
  Serious: Yes (Hospitalization, Other)
  Sender: FDA-Public Use
  Company Number: GB-CELLTRION INC.-2021GB019405

PATIENT

DRUGS (653)
  1. RITUXIMAB [Suspect]
     Active Substance: RITUXIMAB
     Indication: Follicular lymphoma
     Dosage: 750 MG 1Q4W (PHARMACEUTICAL DOSE FORM: 15)
     Route: 042
     Dates: start: 20210308
  2. RITUXIMAB [Suspect]
     Active Substance: RITUXIMAB
     Indication: Follicular lymphoma stage IV
     Dosage: 750 MG 1Q4W (PHARMACEUTICAL DOSE FORM: 15)
     Route: 042
     Dates: start: 20210308
  3. RITUXIMAB [Suspect]
     Active Substance: RITUXIMAB
     Dosage: 750 MG 1Q4W (PHARMACEUTICAL DOSE FORM: 15)
     Route: 042
     Dates: start: 20210308
  4. RITUXIMAB [Suspect]
     Active Substance: RITUXIMAB
     Dosage: 750 MILLIGRAM, DATE OF LAST DOSE PRIOR TO EVENT: 9/SEP/2021/DATE OF LAST DOSE PRIOR TO EVENT: 21-SEP
     Route: 042
     Dates: start: 20210308
  5. RITUXIMAB [Suspect]
     Active Substance: RITUXIMAB
     Dosage: 750 MILLIGRAM, DATE OF LAST DOSE PRIOR TO EVENT: 9/SEP/2021/DATE OF LAST DOSE PRIOR TO EVENT: 21-SEP
     Route: 042
     Dates: start: 20210308
  6. RITUXIMAB [Suspect]
     Active Substance: RITUXIMAB
     Dosage: 750 MILLIGRAM, DATE OF LAST DOSE PRIOR TO EVENT: 9/SEP/2021/DATE OF LAST DOSE PRIOR TO EVENT: 21-SEP
     Route: 042
     Dates: start: 20210308
  7. RITUXIMAB [Suspect]
     Active Substance: RITUXIMAB
     Dosage: 750 MILLIGRAM
     Route: 065
     Dates: start: 20210705
  8. RITUXIMAB [Suspect]
     Active Substance: RITUXIMAB
     Dosage: 750 MILLIGRAM
     Route: 042
     Dates: start: 20210705
  9. RITUXIMAB [Suspect]
     Active Substance: RITUXIMAB
     Dosage: 750 MILLIGRAM
     Route: 042
     Dates: start: 20210705
  10. RITUXIMAB [Suspect]
     Active Substance: RITUXIMAB
     Dosage: 750 MILLIGRAM
     Route: 042
     Dates: start: 20210705
  11. RITUXIMAB [Suspect]
     Active Substance: RITUXIMAB
     Dosage: 750 MILLIGRAM, Q4WEEKS (CUMULATIVE DOSE TO FIRST REACTION: 10392.857 MG)
     Route: 042
     Dates: start: 20210308
  12. RITUXIMAB [Suspect]
     Active Substance: RITUXIMAB
     Dosage: 750 MILLIGRAM, Q4WEEKS (CUMULATIVE DOSE TO FIRST REACTION: 13579.241 MG)
     Route: 042
     Dates: start: 20210705
  13. RITUXIMAB [Suspect]
     Active Substance: RITUXIMAB
     Dosage: 750 MG, Q4WEEKS;DATE OF LAST DOSE PRIOR TO EVENT: 9/SEP/2021/DATE OF LAST DOSE PRIOR TO EVENT:21-SEP
     Route: 042
     Dates: start: 20210308
  14. RITUXIMAB [Suspect]
     Active Substance: RITUXIMAB
     Dosage: 750 MILLIGRAM, 4XW (CUMULATIVE DOSE TO FIRST REACTION: 3000.0 MG)
     Route: 042
     Dates: start: 20210705
  15. RITUXIMAB [Suspect]
     Active Substance: RITUXIMAB
     Dosage: 750 MILLIGRAM, 4XW(750 MG 1Q4W (PHARMACEUTICAL DOSE FORM: 15)) (CUMULATIVE DOSE TO FIRST REACTION: 5
     Route: 042
     Dates: start: 20210308
  16. RITUXIMAB [Suspect]
     Active Substance: RITUXIMAB
     Dosage: 750 MILLIGRAM, 4XW(DATE OF LAST DOSE PRIOR TO EVENT: 9/SEP/2021/ AND 21-SEP, ROA: IV DRIP)(CUMULATIV
     Route: 041
     Dates: start: 20210308
  17. RITUXIMAB [Suspect]
     Active Substance: RITUXIMAB
     Dosage: 750 MILLIGRAM, 4XW (CUMULATIVE DOSE TO FIRST REACTION: 53982.145 MG)
     Route: 042
     Dates: start: 20210308
  18. RITUXIMAB [Suspect]
     Active Substance: RITUXIMAB
     Dosage: 750MG,4XW(LAST DOSE:9SEP2021,21SEP,ROA:IVDRIP) (CUMULATIVE DOSE TO FIRST REACTION: 166285.72 MG)
     Dates: start: 20210308
  19. RITUXIMAB [Suspect]
     Active Substance: RITUXIMAB
     Dosage: DOSEFORM:15,LAST DOSE PRIOR EVENT:9SEP21AND21SEP (CUMULATIVE DOSE TO FIRST REACTION: 166285.72 MG)
     Route: 042
     Dates: start: 20210308
  20. RITUXIMAB [Suspect]
     Active Substance: RITUXIMAB
     Dosage: 750 MILLIGRAM
     Route: 042
     Dates: start: 20210705
  21. RITUXIMAB [Suspect]
     Active Substance: RITUXIMAB
     Dosage: 750 MILLIGRAM, 4XW(750 MG 1Q4W (PHARMACEUTICAL DOSE FORM: 15))
     Route: 042
     Dates: start: 20210308
  22. RITUXIMAB [Suspect]
     Active Substance: RITUXIMAB
     Dosage: 750 MILLIGRAM, 4XW(DATE OF LAST DOSE PRIOR TO EVENT: 9/SEP/2021/ AND 21-SEP, ROA: IV DRIP)
     Route: 042
     Dates: start: 20210308
  23. RITUXIMAB [Suspect]
     Active Substance: RITUXIMAB
     Dosage: 300 MILLIGRAM, 1/WEEK; CUMULATIVE DOSE TO FIRST REACTION: 21726.785 MG
     Route: 042
     Dates: start: 20210705
  24. RITUXIMAB [Suspect]
     Active Substance: RITUXIMAB
     Dosage: 300 MILLIGRAM, 1/WEEK; CUMULATIVE DOSE TO FIRST REACTION: 16628.572 MG
     Route: 042
     Dates: start: 20210308
  25. RITUXIMAB [Suspect]
     Active Substance: RITUXIMAB
     Dosage: 300 MILLIGRAM, 1/WEEK; CUMULATIVE DOSE TO FIRST REACTION: 3373.884MG
     Route: 042
     Dates: start: 20210308
  26. RITUXIMAB [Suspect]
     Active Substance: RITUXIMAB
     Dosage: 300 MILLIGRAM, 1/WEEK; CUMULATIVE DOSE TO FIRST REACTION: 3373.884 MG
     Route: 042
     Dates: start: 20210705
  27. RITUXIMAB [Suspect]
     Active Substance: RITUXIMAB
     Dosage: 750 MG
     Route: 042
     Dates: start: 20210308
  28. RITUXIMAB [Suspect]
     Active Substance: RITUXIMAB
     Dosage: 750 MG
     Route: 042
     Dates: start: 20210705
  29. RITUXIMAB [Suspect]
     Active Substance: RITUXIMAB
     Dosage: 3000 MG, QW (750 MILLIGRAM, 4XW (DATE OF LAST DOSE PRIOR TO EVENT: 9/SEP/2021/ AND 21-SEP, ROA: IV D
     Route: 042
     Dates: start: 20210308
  30. RITUXIMAB [Suspect]
     Active Substance: RITUXIMAB
     Dosage: 3000 MG, QW (750 MILLIGRAM, 4XW (DATE OF LAST DOSE PRIOR TO EVENT: 9/SEP/2021/ AND
     Route: 042
     Dates: start: 20210308
  31. RITUXIMAB [Suspect]
     Active Substance: RITUXIMAB
     Dosage: 3000 MILLIGRAM, QW [, 4XW (CUMULATIVE DOSE TO FIRST REACTION: 3000.0 MG)]
     Route: 042
     Dates: start: 20210705
  32. RITUXIMAB [Suspect]
     Active Substance: RITUXIMAB
     Dosage: 375 MG/M2, Q4WEEKS
     Route: 042
     Dates: start: 20210308
  33. RITUXIMAB [Suspect]
     Active Substance: RITUXIMAB
     Dosage: UNK/ CUMULATIVE DOSE: 53982.14 MG (ADDITIONAL INFORMATION:8/JUN/2020 AND 18/MAY/2020,25/JUN/2020 THE
  34. RITUXIMAB [Suspect]
     Active Substance: RITUXIMAB
     Indication: Follicular lymphoma
     Dosage: 750 MILLIGRAM
     Route: 042
     Dates: start: 20210308
  35. RITUXIMAB [Suspect]
     Active Substance: RITUXIMAB
     Dosage: 3000 MILLIGRAM, QWK
     Route: 042
     Dates: start: 20210308
  36. RITUXIMAB [Suspect]
     Active Substance: RITUXIMAB
     Dosage: 750 MILLIGRAM, 1/WEEK
     Route: 042
     Dates: start: 20210705
  37. BEVACIZUMAB [Suspect]
     Active Substance: BEVACIZUMAB
     Indication: Transitional cell carcinoma
     Dosage: 1100 MG
     Route: 042
     Dates: start: 20200210
  38. BEVACIZUMAB [Suspect]
     Active Substance: BEVACIZUMAB
     Indication: Non-small cell lung cancer
     Dosage: 1100 MG
     Route: 042
     Dates: start: 20200210
  39. BEVACIZUMAB [Suspect]
     Active Substance: BEVACIZUMAB
     Indication: Transitional cell carcinoma
     Dosage: 1100 MG
     Route: 042
     Dates: start: 20200210
  40. BEVACIZUMAB [Suspect]
     Active Substance: BEVACIZUMAB
     Dosage: 1100 MG
     Route: 042
     Dates: start: 20200210
  41. BEVACIZUMAB [Suspect]
     Active Substance: BEVACIZUMAB
     Dosage: 1200 MG, 1 WEEK; CUMULATIVE DOSE TO FIRST REACTION: 685.7143 MG
     Route: 042
     Dates: start: 20200210
  42. BEVACIZUMAB [Suspect]
     Active Substance: BEVACIZUMAB
     Dosage: 1200 MG, 1 WEEK; CUMULATIVE DOSE TO FIRST REACTION: 685.7143 MG
     Route: 042
     Dates: start: 20200210
  43. BEVACIZUMAB [Suspect]
     Active Substance: BEVACIZUMAB
     Dosage: 1200 MG, 1 WEEK; CUMULATIVE DOSE TO FIRST REACTION: 685.7143 MG
     Route: 042
     Dates: start: 20200210
  44. BEVACIZUMAB [Suspect]
     Active Substance: BEVACIZUMAB
     Dosage: 1200 MG, 1 WEEK; CUMULATIVE DOSE TO FIRST REACTION: 685.7143 MG
     Route: 042
     Dates: start: 20200210
  45. BEVACIZUMAB [Suspect]
     Active Substance: BEVACIZUMAB
     Dosage: 1200 MG, 2 WEEK; CUMULATIVE DOSE TO FIRST REACTION: 342.85715 MG
     Route: 042
     Dates: start: 20200210
  46. BEVACIZUMAB [Suspect]
     Active Substance: BEVACIZUMAB
     Dosage: 1200 MG, 2 WEEK; CUMULATIVE DOSE TO FIRST REACTION: 342.85715 MG
     Route: 042
     Dates: start: 20200210
  47. BEVACIZUMAB [Suspect]
     Active Substance: BEVACIZUMAB
     Dosage: 1200 MG, 2 WEEK; CUMULATIVE DOSE TO FIRST REACTION: 342.85715 MG
     Route: 042
     Dates: start: 20200210
  48. BEVACIZUMAB [Suspect]
     Active Substance: BEVACIZUMAB
     Dosage: 1200 MG, 2 WEEK; CUMULATIVE DOSE TO FIRST REACTION: 342.85715 MG
     Route: 042
     Dates: start: 20200210
  49. BEVACIZUMAB [Suspect]
     Active Substance: BEVACIZUMAB
     Dosage: 1200 MG, 3 WEEK; CUMULATIVE DOSE TO FIRST REACTION: 228.57143 MG
     Route: 042
     Dates: start: 20200210
  50. BEVACIZUMAB [Suspect]
     Active Substance: BEVACIZUMAB
     Dosage: 1200 MG, 3 WEEK; CUMULATIVE DOSE TO FIRST REACTION: 228.57143 MG
     Route: 042
     Dates: start: 20200210
  51. BEVACIZUMAB [Suspect]
     Active Substance: BEVACIZUMAB
     Dosage: 1200 MG, 3 WEEK; CUMULATIVE DOSE TO FIRST REACTION: 228.57143 MG
     Route: 042
     Dates: start: 20200210
  52. BEVACIZUMAB [Suspect]
     Active Substance: BEVACIZUMAB
     Dosage: 1200 MG, 3 WEEK; CUMULATIVE DOSE TO FIRST REACTION: 228.57143 MG
     Route: 042
     Dates: start: 20200210
  53. BEVACIZUMAB [Suspect]
     Active Substance: BEVACIZUMAB
     Dosage: 1200 MILLIGRAM, BIWEEKLY; CUMULATIVE DOSE TO FIRST REACTION: 44396.43 MG
     Route: 042
     Dates: start: 20200210
  54. BEVACIZUMAB [Suspect]
     Active Substance: BEVACIZUMAB
     Dosage: 1200 MILLIGRAM, 3XW (CUMULATIVE DOSE TO FIRST REACTION: 266378.56 MG)
     Route: 042
     Dates: start: 20200210
  55. BEVACIZUMAB [Suspect]
     Active Substance: BEVACIZUMAB
     Dosage: 1200 MILLIGRAM, QW (CUMULATIVE DOSE TO FIRST REACTION: 88792.86 MG)
     Route: 042
     Dates: start: 20200210
  56. BEVACIZUMAB [Suspect]
     Active Substance: BEVACIZUMAB
     Dosage: UNK2400 MG, QW (1200 MILLIGRAM, BIWEEKLY)
     Route: 042
  57. BEVACIZUMAB [Suspect]
     Active Substance: BEVACIZUMAB
     Dosage: 1200 MILLIGRAM, BIWEEKLY
     Route: 042
     Dates: start: 20200210
  58. BEVACIZUMAB [Suspect]
     Active Substance: BEVACIZUMAB
     Dosage: UNK
  59. BEVACIZUMAB [Suspect]
     Active Substance: BEVACIZUMAB
     Dosage: 1200 MILLIGRAM, 3XW
     Route: 042
     Dates: start: 20200210
  60. BEVACIZUMAB [Suspect]
     Active Substance: BEVACIZUMAB
     Dosage: 1100 MILLIGRAM
     Route: 042
     Dates: start: 20200210
  61. BEVACIZUMAB [Suspect]
     Active Substance: BEVACIZUMAB
     Dosage: 1200 MILLIGRAM, QW; CUMULATIVE DOSE TO FIRST REACTION: 342.85715 MG
     Route: 042
     Dates: start: 20200210
  62. BEVACIZUMAB [Suspect]
     Active Substance: BEVACIZUMAB
     Dosage: 1200 MILLIGRAM, QW; CUMULATIVE DOSE TO FIRST REACTION: 685.7143 MG
     Route: 042
     Dates: start: 20200210
  63. BEVACIZUMAB [Suspect]
     Active Substance: BEVACIZUMAB
     Dosage: 1200 MILLIGRAM, QW; CUMULATIVE DOSE TO FIRST REACTION: 685.7143 MG
     Route: 042
     Dates: start: 20200210
  64. BEVACIZUMAB [Suspect]
     Active Substance: BEVACIZUMAB
     Dosage: CUMULATIVE DOSE TO FIRST REACTION: 1371.4286 MG 2400 MILLIGRAM, QWK
     Route: 042
     Dates: start: 20200210
  65. BEVACIZUMAB [Suspect]
     Active Substance: BEVACIZUMAB
     Dosage: 1100 MG
     Route: 042
     Dates: start: 20200210
  66. BEVACIZUMAB [Suspect]
     Active Substance: BEVACIZUMAB
     Dosage: 1200 MILLIGRAM, QW
     Route: 042
     Dates: start: 20200210
  67. BEVACIZUMAB [Suspect]
     Active Substance: BEVACIZUMAB
     Dosage: CUMULATIVE DOSE TO FIRST REACTION: 67200.0 MG 2400 MILLIGRAM, QWK2400 MILLIGRAM, QWK
     Route: 042
     Dates: start: 20200210
  68. BEVACIZUMAB [Suspect]
     Active Substance: BEVACIZUMAB
     Dosage: CUMULATIVE DOSE TO FIRST REACTION: 134400.0 MG 2400 MILLIGRAM, QWK2400 MILLIGRAM, QWK
     Route: 042
     Dates: start: 20200210
  69. BEVACIZUMAB [Suspect]
     Active Substance: BEVACIZUMAB
     Dosage: CUMULATIVE DOSE TO FIRST REACTION: 22400.0.0 MG 2400 MILLIGRAM, QWK2400 MILLIGRAM, QWK
     Route: 042
     Dates: start: 20200210
  70. BEVACIZUMAB [Suspect]
     Active Substance: BEVACIZUMAB
     Dosage: 1200 MILLIGRAM, QWK
     Route: 042
  71. BEVACIZUMAB [Suspect]
     Active Substance: BEVACIZUMAB
     Dosage: 2400 MG, QW (1200 MILLIGRAM, BIWEEKLY) CUMULATIVE DOSE: 1371.4286 MG
     Route: 042
  72. BEVACIZUMAB [Suspect]
     Active Substance: BEVACIZUMAB
     Dosage: 1100 MG, QW CUMULATIVE DOSE 628.5714 MG
     Route: 042
     Dates: start: 20200210
  73. BEVACIZUMAB [Suspect]
     Active Substance: BEVACIZUMAB
     Dosage: 1100 MG
     Route: 042
     Dates: start: 20200210
  74. BEVACIZUMAB [Suspect]
     Active Substance: BEVACIZUMAB
     Dosage: 1200 MILLIGRAM, QWK
     Route: 042
  75. BEVACIZUMAB [Suspect]
     Active Substance: BEVACIZUMAB
     Dosage: 2400 MG, BIWEEKLY (ADDITIONAL INFO: 2ND INDICATION:UROTHELIAL CARCINOMA)
     Route: 042
     Dates: start: 20200210
  76. BEVACIZUMAB [Suspect]
     Active Substance: BEVACIZUMAB
     Dosage: UNK
  77. BEVACIZUMAB [Suspect]
     Active Substance: BEVACIZUMAB
     Dosage: UNK
  78. BEVACIZUMAB [Suspect]
     Active Substance: BEVACIZUMAB
     Dosage: 1100 MILLIGRAM, QW
     Route: 042
     Dates: start: 20200210
  79. BEVACIZUMAB [Suspect]
     Active Substance: BEVACIZUMAB
     Indication: Transitional cell carcinoma
     Dosage: 1200 MILLIGRAM, QWK
     Route: 042
     Dates: start: 20200210
  80. BEVACIZUMAB [Suspect]
     Active Substance: BEVACIZUMAB
     Indication: Non-small cell lung cancer
     Dosage: UNK
  81. BEVACIZUMAB [Suspect]
     Active Substance: BEVACIZUMAB
     Dosage: 1100 MILLIGRAM
     Route: 042
     Dates: start: 20200210
  82. BEVACIZUMAB [Suspect]
     Active Substance: BEVACIZUMAB
     Dosage: 1100 MILLIGRAM
     Route: 042
     Dates: start: 20200210
  83. BEVACIZUMAB [Suspect]
     Active Substance: BEVACIZUMAB
     Dosage: 1200 MILLIGRAM, QW
     Route: 042
     Dates: start: 20200210
  84. BEVACIZUMAB [Suspect]
     Active Substance: BEVACIZUMAB
     Dosage: 1200 MILLIGRAM, BIWEEKLY
     Route: 042
     Dates: start: 20200210
  85. BEVACIZUMAB [Suspect]
     Active Substance: BEVACIZUMAB
     Dosage: UNK
  86. BEVACIZUMAB [Suspect]
     Active Substance: BEVACIZUMAB
     Dosage: UNK
  87. BEVACIZUMAB [Suspect]
     Active Substance: BEVACIZUMAB
     Indication: Transitional cell carcinoma
     Dosage: 1200 MG, 1 WEEK; CUMULATIVE DOSE TO FIRST REACTION: 685.7143 MG
     Route: 042
     Dates: start: 20200210
  88. BEVACIZUMAB [Suspect]
     Active Substance: BEVACIZUMAB
     Indication: Non-small cell lung cancer
     Dosage: 1100 MG
     Route: 042
     Dates: start: 20200210
  89. BEVACIZUMAB [Suspect]
     Active Substance: BEVACIZUMAB
     Dosage: 3600 MG, QW (1200 MILLIGRAM, 3XW (CUMULATIVE DOSE TO FIRST REACTION: 266378.56 MG))
     Route: 042
     Dates: start: 20200210
  90. BEVACIZUMAB [Suspect]
     Active Substance: BEVACIZUMAB
     Dosage: 2400 MG, QW 1200 MILLIGRAM, BIWEEKLY; CUMULATIVE DOSE TO FIRST REACTION: 44396.43 MG
     Route: 042
     Dates: start: 20200210
  91. BEVACIZUMAB [Suspect]
     Active Substance: BEVACIZUMAB
     Dosage: 2400 MG, QW (CUMULATIVE DOSE TO FIRST REACTION: 134400.0 MG 2400 MILLIGRAM, QWK2400
     Route: 042
     Dates: start: 20200210
  92. BEVACIZUMAB [Suspect]
     Active Substance: BEVACIZUMAB
     Dosage: 2400 MG, QW (1200 MILLIGRAM, BIWEEKLY)
     Route: 042
     Dates: start: 20200210
  93. BEVACIZUMAB [Suspect]
     Active Substance: BEVACIZUMAB
     Dosage: 2400 MG, Q2W 1200 MG, 2 WEEK; CUMULATIVE DOSE TO FIRST REACTION: 342.85715 MG
     Route: 042
     Dates: start: 20200210
  94. BEVACIZUMAB [Suspect]
     Active Substance: BEVACIZUMAB
     Dosage: 2400 MG, QW (CUMULATIVE DOSE TO FIRST REACTION: 1371.4286 MG 2400 MILLIGRAM, QWK)
     Route: 042
     Dates: start: 20200210
  95. BEVACIZUMAB [Suspect]
     Active Substance: BEVACIZUMAB
     Dosage: 1200 MG, QW (1200 MG, 2 WEEK; CUMULATIVE DOSE TO FIRST REACTION: 342.85715 MG)
     Route: 042
     Dates: start: 20200210
  96. BEVACIZUMAB [Suspect]
     Active Substance: BEVACIZUMAB
     Dosage: 1200 MG, Q2W (BIWEEKLY)
     Route: 042
     Dates: start: 20200210
  97. BEVACIZUMAB [Suspect]
     Active Substance: BEVACIZUMAB
     Dosage: UNK (CUMULATIVE DOSE TO FIRST REACTION: 685.714 MILLIGRAMS)
     Route: 042
  98. BEVACIZUMAB [Suspect]
     Active Substance: BEVACIZUMAB
     Dosage: 1200 MG, QW 1200 MG, 1 WEEK; CUMULATIVE DOSE TO FIRST REACTION: 685.7143 MG
     Route: 042
     Dates: start: 20200210
  99. BEVACIZUMAB [Suspect]
     Active Substance: BEVACIZUMAB
     Dosage: 1100 MG, QW (CUMULATIVE DOSE TO FIRST REACTION: 685.714 MILLIGRAMS)
     Route: 042
     Dates: start: 20200210
  100. BEVACIZUMAB [Suspect]
     Active Substance: BEVACIZUMAB
     Dosage: 1200 MG, QW (1200 MILLIGRAM, BIWEEKLY; CUMULATIVE DOSE TO FIRST REACTION: 44396.43 MG)
     Route: 042
     Dates: start: 20200210
  101. BEVACIZUMAB [Suspect]
     Active Substance: BEVACIZUMAB
     Dosage: 1200 MG, QW
     Route: 042
     Dates: start: 20200210
  102. BEVACIZUMAB [Suspect]
     Active Substance: BEVACIZUMAB
     Dosage: 1200 MG, Q3W (1200 MG, 3 WEEK; CUMULATIVE DOSE TO FIRST REACTION: 228.57143 MG)
     Route: 042
     Dates: start: 20200210
  103. BEVACIZUMAB [Suspect]
     Active Substance: BEVACIZUMAB
     Dosage: 3600 MG, QW (1200 MILLIGRAM, 3XW (CUMULATIVE DOSE TO FIRST REACTION: 266378.56 MG))
     Route: 042
     Dates: start: 20200210
  104. BEVACIZUMAB [Suspect]
     Active Substance: BEVACIZUMAB
     Dosage: UNK, CUMULATIVE DOSE TO FIRST REACTION- 685.714 MILLIGRAM
     Route: 042
  105. BEVACIZUMAB [Suspect]
     Active Substance: BEVACIZUMAB
     Dosage: 1200 MG, QW (1200 MILLIGRAM, BIWEEKLY; CUMULATIVE DOSE TO FIRST REACTION: 44396.43 MG)
     Route: 042
     Dates: start: 20200210
  106. BEVACIZUMAB [Suspect]
     Active Substance: BEVACIZUMAB
     Dosage: 1200 MG, QW (1200 MILLIGRAM, BIWEEKLY; CUMULATIVE DOSE TO FIRST REACTION: 44396.43 MG)
     Route: 042
     Dates: start: 20200210
  107. BEVACIZUMAB [Suspect]
     Active Substance: BEVACIZUMAB
     Dosage: UNK UNK, 2/WEEK
  108. BEVACIZUMAB [Suspect]
     Active Substance: BEVACIZUMAB
     Dosage: 1200 MILLIGRAM, Q2W (342.85715 MG)
     Route: 042
     Dates: start: 20200210
  109. BEVACIZUMAB [Suspect]
     Active Substance: BEVACIZUMAB
     Dosage: 1200 MILLIGRAM, Q2W (342.85715 MG)
     Route: 042
     Dates: start: 20200210
  110. BEVACIZUMAB [Suspect]
     Active Substance: BEVACIZUMAB
     Dosage: 1200 MILLIGRAM, Q3W (228.57143 MG)
     Route: 042
     Dates: start: 20200210
  111. RITUXIMAB [Suspect]
     Active Substance: RITUXIMAB
     Indication: Follicular lymphoma
     Dosage: UNK
  112. RITUXIMAB [Suspect]
     Active Substance: RITUXIMAB
     Dosage: 750 MILLIGRAM, 4XW
     Route: 042
     Dates: start: 20210705
  113. RITUXIMAB [Suspect]
     Active Substance: RITUXIMAB
     Dosage: DOSEFORM:15,LAST DOSE PRIOR EVENT:9SEP21AND21SEP
     Route: 042
     Dates: start: 20210308
  114. ATEZOLIZUMAB [Suspect]
     Active Substance: ATEZOLIZUMAB
     Indication: Non-small cell lung cancer
     Dosage: SUBSEQUENTLY, DOSE ON 09/MAR/2020, 06/APR/2020 AND 27/APR/2020, 08/JUN/2020 AND 18/MAY/2020, 25/JUN
     Route: 042
     Dates: start: 20200210, end: 20200210
  115. ATEZOLIZUMAB [Suspect]
     Active Substance: ATEZOLIZUMAB
     Indication: Transitional cell carcinoma
     Dosage: 1200 MILLIGRAM, Q3WK (CUMULATIVE DOSE TO FIRST REACTION: 228.57143 MG)
     Route: 042
     Dates: start: 20200210
  116. ATEZOLIZUMAB [Suspect]
     Active Substance: ATEZOLIZUMAB
     Dosage: 1200 MILLIGRAM, Q3WK (CUMULATIVE DOSE TO FIRST REACTION: 685.7143 MG)
     Route: 042
     Dates: start: 20200210
  117. ATEZOLIZUMAB [Suspect]
     Active Substance: ATEZOLIZUMAB
     Dosage: 1200 MILLIGRAM, Q3WK (CUMULATIVE DOSE TO FIRST REACTION: 342.85715 MG)
     Route: 042
     Dates: start: 20200210
  118. ATEZOLIZUMAB [Suspect]
     Active Substance: ATEZOLIZUMAB
     Dosage: 1200 MG, EVERY 2 WEEK (CUMULATIVE DOSE TO FIRST REACTION: 44396.43 MG; SUBSEQUENTLY, DOSE ON 09/MAR/
     Route: 042
     Dates: start: 20200210
  119. ATEZOLIZUMAB [Suspect]
     Active Substance: ATEZOLIZUMAB
     Dosage: 1200 MG, EVERY 1 WEEK (CUMULATIVE DOSE TO FIRST REACTION: 88792.86 MG; SUBSEQUENTLY, DOSE ON 09/MAR/
     Route: 042
     Dates: start: 20200210
  120. ATEZOLIZUMAB [Suspect]
     Active Substance: ATEZOLIZUMAB
     Dosage: UNK
     Dates: start: 20200518
  121. ATEZOLIZUMAB [Suspect]
     Active Substance: ATEZOLIZUMAB
     Dosage: UNK
     Dates: start: 20200606
  122. ATEZOLIZUMAB [Suspect]
     Active Substance: ATEZOLIZUMAB
     Dosage: UNK
     Dates: start: 20200625
  123. ATEZOLIZUMAB [Suspect]
     Active Substance: ATEZOLIZUMAB
     Dosage: CUMULATIVE DOSE TO FIRST REACTION: 2057.1428 MG; SUBSEQUENTLY, DOSE ON 09/MAR/2020, 06/APR/2020 AND
     Route: 042
  124. ATEZOLIZUMAB [Suspect]
     Active Substance: ATEZOLIZUMAB
     Dosage: 1200 MILLIGRAM, QWK
     Route: 042
     Dates: start: 20200210
  125. ATEZOLIZUMAB [Suspect]
     Active Substance: ATEZOLIZUMAB
     Dosage: 1200 MILLIGRAM, Q2WK(CUMULATIVE DOSE TO FIRST REACTION: 342.85715 MG)
     Route: 042
     Dates: start: 20200210
  126. ATEZOLIZUMAB [Suspect]
     Active Substance: ATEZOLIZUMAB
     Dosage: UNK
     Dates: start: 20200606
  127. ATEZOLIZUMAB [Suspect]
     Active Substance: ATEZOLIZUMAB
     Dosage: UNK
     Dates: start: 20200718
  128. ATEZOLIZUMAB [Suspect]
     Active Substance: ATEZOLIZUMAB
     Dosage: CUMULATIVE DOSE TO FIRST REACTION: 2057.1428 MG; 3600 MILLIGRAM, QW
     Route: 042
  129. ATEZOLIZUMAB [Suspect]
     Active Substance: ATEZOLIZUMAB
     Dosage: 1200 MILLIGRAM, 2/WEEK; CUMULATIVE DOSE TO FIRST REACTION: 685.7143 MG
     Route: 042
  130. ATEZOLIZUMAB [Suspect]
     Active Substance: ATEZOLIZUMAB
     Dosage: UNK
     Dates: start: 20200606
  131. ATEZOLIZUMAB [Suspect]
     Active Substance: ATEZOLIZUMAB
     Dosage: 1200 MILLIGRAM, Q2WK; 1200 MILLIGRAM, Q2WK; CUMULATIVE DOSE TO FIRST REACTION: 342.85715 MG
     Route: 042
  132. ATEZOLIZUMAB [Suspect]
     Active Substance: ATEZOLIZUMAB
     Dosage: UNK
     Dates: start: 20200518
  133. ATEZOLIZUMAB [Suspect]
     Active Substance: ATEZOLIZUMAB
     Dosage: 3600 MILLIGRAM, QWK; CUMULATIVE DOSE TO FIRST REACTION: 2057.1428 MG
     Dates: start: 20200210
  134. ATEZOLIZUMAB [Suspect]
     Active Substance: ATEZOLIZUMAB
     Dosage: UNK
     Dates: start: 20200625
  135. ATEZOLIZUMAB [Suspect]
     Active Substance: ATEZOLIZUMAB
     Dosage: 1200 MG EVERY 0.3 WEEK SUBSEQUENTLY, DOSE ON 09/MAR/2020, 06/APR/2020 AND 27/APR/2020, 08/JUN/2020 A
     Route: 042
     Dates: start: 20200210, end: 20200210
  136. ATEZOLIZUMAB [Suspect]
     Active Substance: ATEZOLIZUMAB
     Dosage: 1200 MG Q3WK, (CUMULATIVE DOSE: 44683.332 MG)
     Route: 042
     Dates: start: 20220406
  137. ATEZOLIZUMAB [Suspect]
     Active Substance: ATEZOLIZUMAB
     Dosage: 1200 MG Q3WK, (CUMULATIVE DOSE: 4169.048 MG)
     Route: 042
     Dates: start: 20200427, end: 20200625
  138. ATEZOLIZUMAB [Suspect]
     Active Substance: ATEZOLIZUMAB
     Dosage: 1200 MILLIGRAM, QWK, (CUMULATIVE DOSE: 685.7143 MG)
     Route: 042
     Dates: start: 20200210
  139. ATEZOLIZUMAB [Suspect]
     Active Substance: ATEZOLIZUMAB
     Dosage: 1200 MILLIGRAM, Q3WK
     Route: 042
     Dates: start: 20220406
  140. ATEZOLIZUMAB [Suspect]
     Active Substance: ATEZOLIZUMAB
     Dosage: 1200 MILLIGRAM, Q3WK
     Route: 042
     Dates: start: 20220406
  141. ATEZOLIZUMAB [Suspect]
     Active Substance: ATEZOLIZUMAB
     Dosage: 1200 MILLIGRAM, Q3WK
     Route: 041
     Dates: start: 20200309, end: 20200625
  142. ATEZOLIZUMAB [Suspect]
     Active Substance: ATEZOLIZUMAB
     Dosage: 2400 MG, 1/WEEK, SUBSEQUENTLY, DOSE ON 09/MAR/2020, 06/APR/2020 AND 27/APR/2020
     Route: 042
     Dates: start: 20200210
  143. ATEZOLIZUMAB [Suspect]
     Active Substance: ATEZOLIZUMAB
     Dosage: UNK
  144. ATEZOLIZUMAB [Suspect]
     Active Substance: ATEZOLIZUMAB
     Indication: Non-small cell lung cancer
     Dosage: SUBSEQUENTLY, DOSE ON 09/MAR/2020, 06/APR/2020 AND 27/APR/2020
     Route: 042
     Dates: start: 20200210
  145. ATEZOLIZUMAB [Suspect]
     Active Substance: ATEZOLIZUMAB
     Indication: Transitional cell carcinoma
     Dosage: SUBSEQUENTLY, DOSE ON 09/MAR/2020, 06/APR/2020 AND 27/APR/2020
     Route: 042
     Dates: start: 20200210
  146. ATEZOLIZUMAB [Suspect]
     Active Substance: ATEZOLIZUMAB
     Dosage: 1200 MILLIGRAM, QWK (CUMULATIVE DOSE TO FIRST REACTION: 685.7143 MG)
     Route: 042
     Dates: start: 20200210
  147. ATEZOLIZUMAB [Suspect]
     Active Substance: ATEZOLIZUMAB
     Indication: Transitional cell carcinoma
     Dosage: 1200 MG, Q3W
     Route: 042
     Dates: start: 20200427, end: 20200625
  148. ATEZOLIZUMAB [Suspect]
     Active Substance: ATEZOLIZUMAB
     Indication: Non-small cell lung cancer
     Dosage: 1200 MILLIGRAM, Q3WK
     Route: 042
     Dates: end: 20200309
  149. ATEZOLIZUMAB [Suspect]
     Active Substance: ATEZOLIZUMAB
     Indication: Transitional cell carcinoma
     Dosage: 1200 MILLIGRAM, Q3WK
     Route: 041
     Dates: end: 20200406
  150. ATEZOLIZUMAB [Suspect]
     Active Substance: ATEZOLIZUMAB
     Dosage: UNK CUMULATIVE DOSE: 342.857
     Dates: start: 20200606
  151. ATEZOLIZUMAB [Suspect]
     Active Substance: ATEZOLIZUMAB
     Dosage: UNK (8 JUN 2020 AND 18 MAY 2020,25 JUN 2020 THE PATIENT RECEIVED MOST RECENT DOSE OF ATEZOLIZUMAB(12
  152. ATEZOLIZUMAB [Suspect]
     Active Substance: ATEZOLIZUMAB
     Dosage: 1200 MG, QW (SUBSEQUENTLY, DOSE ON 09 MAR 2020, 06 APR 2020 AND 27 APR 2020) (8 JUN 2020 AND 18 MAY
     Route: 042
     Dates: start: 20200210
  153. ATEZOLIZUMAB [Suspect]
     Active Substance: ATEZOLIZUMAB
     Dosage: UNK, CUMULATIVE DOSE TO FIRST REACTION: 342.857 MG
     Dates: start: 20200625
  154. ATEZOLIZUMAB [Suspect]
     Active Substance: ATEZOLIZUMAB
     Dosage: UNK, CUMULATIVE DOSE TO FIRST REACTION: 342.857 MG
     Dates: start: 20200518
  155. ATEZOLIZUMAB [Suspect]
     Active Substance: ATEZOLIZUMAB
     Indication: Non-small cell lung cancer
     Dosage: 1200 MG, Q3WK (CUMULATIVE DOSE: 4169.048 MG)
     Route: 042
     Dates: start: 20200427, end: 20200625
  156. ATEZOLIZUMAB [Suspect]
     Active Substance: ATEZOLIZUMAB
     Indication: Transitional cell carcinoma
     Dosage: 1200 MG, Q3WK (CUMULATIVE DOSE: 228.57143 MG)
     Route: 042
     Dates: start: 20200210
  157. ATEZOLIZUMAB [Suspect]
     Active Substance: ATEZOLIZUMAB
     Dosage: 1200 MILLIGRAM, QWK (CUMULATIVE DOSE: 685.7143 MG)
     Route: 042
     Dates: start: 20200210
  158. ATEZOLIZUMAB [Suspect]
     Active Substance: ATEZOLIZUMAB
     Dosage: 1200 MG, Q3WK (CUMULATIVE DOSE: 44683.332 MG)
     Route: 042
     Dates: start: 20220406
  159. ATEZOLIZUMAB [Suspect]
     Active Substance: ATEZOLIZUMAB
     Dosage: 1200 MG (SUBSEQUENTLY, DOSE ON 09/MAR/2020, 06/APR/2020 AND 27/APR/2020, 08/JUN/2020 AND 18/MAY/2020
     Route: 042
     Dates: start: 20200606
  160. ATEZOLIZUMAB [Suspect]
     Active Substance: ATEZOLIZUMAB
     Dosage: 1200 MILLIGRAM, 0.33/WEEK INTERVAL (SUBSEQUENTLY, DOSE ON 09/MAR/2020, 06/APR/2020 AND 27/APR/2020,
     Route: 042
     Dates: start: 20200210
  161. ATEZOLIZUMAB [Suspect]
     Active Substance: ATEZOLIZUMAB
     Dosage: 1200 MILLIGRAM, QWK
     Route: 042
     Dates: start: 20200210
  162. ATEZOLIZUMAB [Suspect]
     Active Substance: ATEZOLIZUMAB
     Dosage: 2400 MG, QW (SUBSEQUENTLY, DOSE ON 09 MAR 2020, 06 APR 2020 AND 27 APR 2020; CUMULATIVE DOSE TO FIRS
     Route: 042
     Dates: start: 20200406
  163. ATEZOLIZUMAB [Suspect]
     Active Substance: ATEZOLIZUMAB
     Dosage: 1200 UNK
  164. ATEZOLIZUMAB [Suspect]
     Active Substance: ATEZOLIZUMAB
     Dosage: UNK (CUMULATIVE DOSE- 2057.142 MILLIGRAMS; CUMULATIVE DOSE TO FIRST REACTION: 342.857 MG
     Route: 042
  165. ATEZOLIZUMAB [Suspect]
     Active Substance: ATEZOLIZUMAB
     Dosage: 3600 MG, QW/ CUMULATIVE DOSE TO FIRST REACTION: 342.857 MG
     Dates: start: 20200518
  166. ATEZOLIZUMAB [Suspect]
     Active Substance: ATEZOLIZUMAB
     Dosage: CUMULATIVE DOSE TO FIRST REACTION: 342.857 MG
     Dates: start: 20200625
  167. ATEZOLIZUMAB [Suspect]
     Active Substance: ATEZOLIZUMAB
     Dosage: 3600 MG, QW (CUMULATIVE DOSE TO FIRST REACTION: 2057.1428 MG;CUMULATIVE DOSE TO FIRST REACTION: 342.
     Route: 042
     Dates: start: 20200210
  168. ATEZOLIZUMAB [Suspect]
     Active Substance: ATEZOLIZUMAB
     Dosage: 1200 MILLIGRAM, Q3WK, CUMULATIVE DOSE TO FIRST REACTION: 342.857 MG
     Route: 042
     Dates: start: 20200309
  169. ATEZOLIZUMAB [Suspect]
     Active Substance: ATEZOLIZUMAB
     Dosage: UNK (CUMULATIVE DOSE- 2057.142 MILLIGRAMS; CUMULATIVE DOSE TO FIRST REACTION: 342.857 MG
     Dates: start: 20200718
  170. ATEZOLIZUMAB [Suspect]
     Active Substance: ATEZOLIZUMAB
     Dosage: 3600 MG, QW/ CUMULATIVE DOSE TO FIRST REACTION: 342.857 MG
     Dates: start: 20200518
  171. ATEZOLIZUMAB [Suspect]
     Active Substance: ATEZOLIZUMAB
     Dosage: 3600 MG, QW/ CUMULATIVE DOSE TO FIRST REACTION: 342.857 MG
     Dates: start: 20200518
  172. ATEZOLIZUMAB [Suspect]
     Active Substance: ATEZOLIZUMAB
     Dosage: 3600 MG, QW (CUMULATIVE DOSE TO FIRST REACTION: 2057.1428 MG; 3600 MILLIGRAM, QW; CUMULATIVE DOSE TO
     Route: 042
     Dates: start: 20200625
  173. ATEZOLIZUMAB [Suspect]
     Active Substance: ATEZOLIZUMAB
     Dosage: 1200 MG, Q3WK (CUMULATIVE DOSE: 342.857 MG)
     Route: 042
     Dates: start: 20200406
  174. ATEZOLIZUMAB [Suspect]
     Active Substance: ATEZOLIZUMAB
     Dosage: UNK (CUMULATIVE DOSE- 2057.142 MILLIGRAMS; CUMULATIVE DOSE TO FIRST REACTION: 342.857 MG
     Route: 042
     Dates: start: 20200718
  175. ATEZOLIZUMAB [Suspect]
     Active Substance: ATEZOLIZUMAB
     Dosage: 2400 MG, QW (CUMULATIVE DOSE TO FIRST REACTION: 685.7143 MG; CUMULATIVE DOSE TO FIRST REACTION: 342.
     Route: 042
  176. ATEZOLIZUMAB [Suspect]
     Active Substance: ATEZOLIZUMAB
     Dosage: UNK (CUMULATIVE DOSE- 2057.142 MILLIGRAMS; CUMULATIVE DOSE TO FIRST REACTION: 342.857 MG
     Route: 042
     Dates: start: 20200606
  177. ATEZOLIZUMAB [Suspect]
     Active Substance: ATEZOLIZUMAB
     Dosage: 1200 MG, QW (SUBSEQUENTLY, DOSE ON 09/MAR/2020, 06/APR/2020 AND 27/APR/2020, 08/JUN/2020 AND 18/MAY/
     Route: 042
     Dates: start: 20200210
  178. ATEZOLIZUMAB [Suspect]
     Active Substance: ATEZOLIZUMAB
     Dosage: 1200 MILLIGRAM (SUBSEQUENTLY, DOSE ON 09/MAR/2020, 06/APR/2020 AND 27/APR/2020, 08/JUN/2020 AND 18/M
     Route: 042
     Dates: start: 20200210
  179. ATEZOLIZUMAB [Suspect]
     Active Substance: ATEZOLIZUMAB
     Dosage: 1200 MILLIGRAM, EVERY WEEK (8/JUN/2020 AND 18/MAY/2020,25/JUN/2020 THEPATIENTRECEIVED MOST RECENT DO
     Route: 042
  180. ATEZOLIZUMAB [Suspect]
     Active Substance: ATEZOLIZUMAB
     Dosage: 3600 MG, QW (SUBSEQUENTLY, DOSE ON 09 MAR 2020, 06 APR 2020 AND 27 APR 2020, 08 JUN
     Route: 042
     Dates: start: 20200210
  181. ATEZOLIZUMAB [Suspect]
     Active Substance: ATEZOLIZUMAB
     Dosage: 1200 MG, Q3W (CUMULATIVE DOSE: 4169.048 MG)
     Route: 042
     Dates: start: 20200427, end: 20200625
  182. ATEZOLIZUMAB [Suspect]
     Active Substance: ATEZOLIZUMAB
     Dosage: UNK (CUMULATIVE DOSE- 2057.142 MILLIGRAM)
     Route: 042
     Dates: start: 20200606
  183. ATEZOLIZUMAB [Suspect]
     Active Substance: ATEZOLIZUMAB
     Dosage: 3600 MG, QW (CUMULATIVE DOSE TO FIRST REACTION: 2057.1428 MG; 3600 MILLIGRAM, QW)
     Route: 042
     Dates: start: 20200625
  184. ATEZOLIZUMAB [Suspect]
     Active Substance: ATEZOLIZUMAB
     Dosage: UNK (CUMULATIVE DOSE- 2057.142 MILLIGRAM)
     Route: 042
     Dates: start: 20200625
  185. ATEZOLIZUMAB [Suspect]
     Active Substance: ATEZOLIZUMAB
     Dosage: 3600 MG, QW (1200 MILLIGRAM, Q3WK)
     Dates: start: 20200309
  186. ATEZOLIZUMAB [Suspect]
     Active Substance: ATEZOLIZUMAB
     Dosage: UNK (CUMULATIVE DOSE- 2057.142 MILLIGRAMS)
     Dates: start: 20200718
  187. ATEZOLIZUMAB [Suspect]
     Active Substance: ATEZOLIZUMAB
     Dosage: UNK (8 JUN 2020 AND 18 MAY 2020,25 JUN 2020 THE PATIENT RECEIVED MOST RECENT DOSE OF
     Dates: start: 20200718
  188. ATEZOLIZUMAB [Suspect]
     Active Substance: ATEZOLIZUMAB
     Dosage: 1200 MG, Q3W (CUMULATIVE DOSE: 44683.332 MG)
     Dates: start: 20200427, end: 20200427
  189. ATEZOLIZUMAB [Suspect]
     Active Substance: ATEZOLIZUMAB
     Dosage: 1200 MG, Q3W (CUMULATIVE DOSE: 44683.332 MG)
     Dates: start: 20220406
  190. ATEZOLIZUMAB [Suspect]
     Active Substance: ATEZOLIZUMAB
     Dosage: 2400 MG, QW (SUBSEQUENTLY, DOSE ON 09 MAR 2020, 06 APR 2020 AND 27 APR 2020)
     Route: 042
     Dates: start: 20200406
  191. ATEZOLIZUMAB [Suspect]
     Active Substance: ATEZOLIZUMAB
     Dosage: 1200 MG, Q3W
     Route: 042
     Dates: start: 20200406, end: 20200625
  192. ATEZOLIZUMAB [Suspect]
     Active Substance: ATEZOLIZUMAB
     Dosage: 1200 MG, Q2W (CUMULATIVE DOSE TO FIRST REACTION: 44396.43 MG; SUBSEQUENTLY, DOSE ON 09
     Route: 042
     Dates: start: 20200210
  193. ATEZOLIZUMAB [Suspect]
     Active Substance: ATEZOLIZUMAB
     Dosage: 1200 MG, QW (SUBSEQUENTLY, DOSE ON 09 MAR 2020, 06 APR 2020 AND 27 APR 2020) (8 JUN
     Route: 042
     Dates: start: 20200210
  194. ATEZOLIZUMAB [Suspect]
     Active Substance: ATEZOLIZUMAB
     Dosage: 2400 MG, QW (CUMULATIVE DOSE TO FIRST REACTION: 685.7143 MG)
     Route: 042
     Dates: start: 20200406
  195. ATEZOLIZUMAB [Suspect]
     Active Substance: ATEZOLIZUMAB
     Dosage: 1200 MG, Q3W (CUMULATIVE DOSE TO FIRST REACTION: 342.85715 MG)
     Route: 042
     Dates: start: 20200210
  196. ATEZOLIZUMAB [Suspect]
     Active Substance: ATEZOLIZUMAB
     Dosage: UNK
     Dates: start: 20200625
  197. ATEZOLIZUMAB [Suspect]
     Active Substance: ATEZOLIZUMAB
     Dosage: 3600 MG, QW
     Dates: start: 20200518
  198. BENDAMUSTINE [Suspect]
     Active Substance: BENDAMUSTINE
     Indication: Follicular lymphoma
     Dosage: 180 MG EVERY DAY (PHARMACEUTICAL DOSE FORM: 15)
     Route: 042
     Dates: start: 20210308
  199. BENDAMUSTINE [Suspect]
     Active Substance: BENDAMUSTINE
     Dosage: 180 MG EVERY DAY (PHARMACEUTICAL DOSE FORM: 15)
     Dates: start: 20210308
  200. BENDAMUSTINE [Suspect]
     Active Substance: BENDAMUSTINE
     Dosage: 180 MG EVERY DAY (PHARMACEUTICAL DOSE FORM: 15)
     Dates: start: 20210308
  201. BENDAMUSTINE [Suspect]
     Active Substance: BENDAMUSTINE
     Dosage: 180 MG
     Route: 065
     Dates: start: 20210706
  202. BENDAMUSTINE [Suspect]
     Active Substance: BENDAMUSTINE
     Dosage: 180 MG
     Dates: start: 20210706
  203. BENDAMUSTINE [Suspect]
     Active Substance: BENDAMUSTINE
     Dosage: 180 MILLIGRAM, QD (CUMULATIVE DOSE TO FIRST REACTION: 69840.0 MG)
     Route: 042
     Dates: start: 20210308
  204. BENDAMUSTINE [Suspect]
     Active Substance: BENDAMUSTINE
     Dosage: UNK
  205. BENDAMUSTINE [Suspect]
     Active Substance: BENDAMUSTINE
     Dosage: 180 MILLIGRAM, QD (180 MG EVERY DAY (PHARMACEUTICAL DOSE FORM: 15)
     Route: 042
     Dates: start: 20210308
  206. BENDAMUSTINE [Suspect]
     Active Substance: BENDAMUSTINE
     Dosage: 180 MG, QD (CUMULATIVE DOSE: 91432.5 MG)
     Route: 042
     Dates: start: 20210706
  207. BENDAMUSTINE [Suspect]
     Active Substance: BENDAMUSTINE
     Indication: Follicular lymphoma
     Dosage: 180 MG, QD
     Route: 042
     Dates: start: 20210308
  208. BENDAMUSTINE [Suspect]
     Active Substance: BENDAMUSTINE
     Dosage: 180 MG
     Dates: start: 20210706
  209. BENDAMUSTINE [Suspect]
     Active Substance: BENDAMUSTINE
     Dosage: UNK (CUMULATIVE DOSE- 22672.5 MILLIGRAMS)
  210. BENDAMUSTINE [Suspect]
     Active Substance: BENDAMUSTINE
     Dosage: 180 MG, QD (CUMULATIVE DOSE TO FIRST REACTION: 69840.0 MG)
     Route: 042
     Dates: start: 20210308
  211. BENDAMUSTINE [Suspect]
     Active Substance: BENDAMUSTINE
     Dosage: 180 MG, QD
     Route: 042
     Dates: start: 20210308
  212. BENDAMUSTINE [Suspect]
     Active Substance: BENDAMUSTINE
     Dosage: 180 MG, QD
     Route: 042
     Dates: start: 20210308
  213. BENDAMUSTINE [Suspect]
     Active Substance: BENDAMUSTINE
     Dosage: 180 MG, QD
     Route: 042
     Dates: start: 20210706
  214. BENDAMUSTINE [Suspect]
     Active Substance: BENDAMUSTINE
     Indication: Follicular lymphoma
     Dosage: 180 MG
     Dates: start: 20210706
  215. BENDAMUSTINE [Suspect]
     Active Substance: BENDAMUSTINE
     Dosage: 180 MILLIGRAM, QD (CUMULATIVE DOSE TO FIRST REACTION: 69840.0 MG) 180 MG EVERY DAY (PHARMACEUTICAL D
     Dates: start: 20210308
  216. BENDAMUSTINE [Suspect]
     Active Substance: BENDAMUSTINE
     Dosage: 180 MG, QD
     Dates: start: 20210308
  217. BENDAMUSTINE [Suspect]
     Active Substance: BENDAMUSTINE
     Dosage: UNK
  218. BENDAMUSTINE [Suspect]
     Active Substance: BENDAMUSTINE
     Dosage: UNK (CUMULATIVE DOSE- 22672.5 MILLIGRAMS)
     Dates: start: 20210308
  219. BENDAMUSTINE [Suspect]
     Active Substance: BENDAMUSTINE
     Dosage: 180 MG
     Dates: start: 20210706
  220. BENDAMUSTINE [Suspect]
     Active Substance: BENDAMUSTINE
     Dosage: 180 MILLIGRAM, QD (CUMULATIVE DOSE TO FIRST REACTION: 69840.0 MG)
     Dates: start: 20210308
  221. BENDAMUSTINE [Suspect]
     Active Substance: BENDAMUSTINE
     Dosage: 180 MG EVERY DAY (PHARMACEUTICAL DOSE FORM: 15)
     Dates: start: 20210308
  222. BENDAMUSTINE [Suspect]
     Active Substance: BENDAMUSTINE
     Dosage: CUMULATIVE DOSE- 22672.5 MILLIGRAMS
  223. BENDAMUSTINE HYDROCHLORIDE [Suspect]
     Active Substance: BENDAMUSTINE HYDROCHLORIDE
     Indication: Follicular lymphoma
     Dosage: 180 MILLIGRAM
     Route: 042
     Dates: start: 20210706
  224. BENDAMUSTINE HYDROCHLORIDE [Suspect]
     Active Substance: BENDAMUSTINE HYDROCHLORIDE
     Indication: Follicular lymphoma stage IV
     Dosage: 180 MILLIGRAM,QD(180MG EVERY DAYDOSE FORM:15) (CUMULATIVE DOSE TO FIRST REACTION: 69840.0 MG)
     Route: 042
     Dates: start: 20210308
  225. BENDAMUSTINE HYDROCHLORIDE [Suspect]
     Active Substance: BENDAMUSTINE HYDROCHLORIDE
     Dosage: UNK
  226. BENDAMUSTINE HYDROCHLORIDE [Suspect]
     Active Substance: BENDAMUSTINE HYDROCHLORIDE
     Dosage: 180 MILLIGRAM,QD(180MG EVERY DAYDOSE FORM:15)(CUMULATIVE DOSE TO FIRST REACTION: 69840.0 MG)
     Dates: start: 20210308
  227. BENDAMUSTINE HYDROCHLORIDE [Suspect]
     Active Substance: BENDAMUSTINE HYDROCHLORIDE
     Dosage: UNK (CUMULATIVE DOSE: 69840 MG)
     Route: 042
  228. BENDAMUSTINE HYDROCHLORIDE [Suspect]
     Active Substance: BENDAMUSTINE HYDROCHLORIDE
     Dosage: 180 MILLIGRAM (CUMULATIVE DOSE: 69840 MG)
     Route: 042
     Dates: start: 20210706
  229. BENDAMUSTINE HYDROCHLORIDE [Suspect]
     Active Substance: BENDAMUSTINE HYDROCHLORIDE
     Dosage: UNK (CUMULATIVE DOSE: 69840 MG)
  230. BENDAMUSTINE HYDROCHLORIDE [Suspect]
     Active Substance: BENDAMUSTINE HYDROCHLORIDE
     Dosage: 180 MILLIGRAM, QD (180 MG EVERY DAY (PHARMACEUTICAL DOSE FORM: 15)
     Dates: start: 20210308
  231. BENDAMUSTINE HYDROCHLORIDE [Suspect]
     Active Substance: BENDAMUSTINE HYDROCHLORIDE
     Dosage: 180 MILLIGRAM, QD (180 MG EVERY DAY (PHARMACEUTICAL DOSE FORM: 15)
     Dates: start: 20210308
  232. BENDAMUSTINE HYDROCHLORIDE [Suspect]
     Active Substance: BENDAMUSTINE HYDROCHLORIDE
     Dosage: 180 MILLIGRAM
  233. BENDAMUSTINE HYDROCHLORIDE [Suspect]
     Active Substance: BENDAMUSTINE HYDROCHLORIDE
     Dosage: UNK
  234. BENDAMUSTINE HYDROCHLORIDE [Suspect]
     Active Substance: BENDAMUSTINE HYDROCHLORIDE
     Dosage: 180 MILLIGRAM, QD (180 MG EVERY DAY (PHARMACEUTICAL DOSE FORM: 15)
     Dates: start: 20210308
  235. BENDAMUSTINE HYDROCHLORIDE [Suspect]
     Active Substance: BENDAMUSTINE HYDROCHLORIDE
     Dosage: 180 MILLIGRAM, QD (CUMULATIVE DOSE TO FIRST REACTION: 22672.5 MG; 180 MG EVERY DAY (PHARMACEUTICAL D
     Dates: start: 20210308
  236. BENDAMUSTINE HYDROCHLORIDE [Suspect]
     Active Substance: BENDAMUSTINE HYDROCHLORIDE
     Dosage: UNK
  237. BENDAMUSTINE HYDROCHLORIDE [Suspect]
     Active Substance: BENDAMUSTINE HYDROCHLORIDE
     Dosage: UNK
     Route: 042
  238. BENDAMUSTINE HYDROCHLORIDE [Suspect]
     Active Substance: BENDAMUSTINE HYDROCHLORIDE
     Dosage: 90 MG/M2, EVERY DAY (SUBSEQUENT DOSE (90 MG/M2) BENDAMUSTINE ON 06/APR/2021 TO 07/APR/2021, 04/MAY/2
     Route: 042
     Dates: start: 20210308
  239. BENDAMUSTINE HYDROCHLORIDE [Suspect]
     Active Substance: BENDAMUSTINE HYDROCHLORIDE
     Indication: Follicular lymphoma
     Dosage: UNK
  240. BENDAMUSTINE HYDROCHLORIDE [Suspect]
     Active Substance: BENDAMUSTINE HYDROCHLORIDE
     Indication: Follicular lymphoma stage IV
     Dosage: 180 MG, QD (DOSE FORM:15) (CUMULATIVE DOSE TO FIRST REACTION: 69840.0 MG)
     Dates: start: 20210308
  241. BENDAMUSTINE HYDROCHLORIDE [Suspect]
     Active Substance: BENDAMUSTINE HYDROCHLORIDE
     Dosage: 180 MG, QD (DOSE FORM:15)(CUMULATIVE DOSE TO FIRST REACTION: 69840.0 MG)
     Dates: start: 20210308
  242. BENDAMUSTINE HYDROCHLORIDE [Suspect]
     Active Substance: BENDAMUSTINE HYDROCHLORIDE
     Dosage: 180 MG
     Dates: start: 20210706
  243. BENDAMUSTINE HYDROCHLORIDE [Suspect]
     Active Substance: BENDAMUSTINE HYDROCHLORIDE
     Dosage: 90 MG/M2, QD (SUBSEQUENT DOSE (90 MG/M2) BENDAMUSTINE ON 06/APR/2021 TO 07/APR/2021, 04/MAY/2021 TO
     Route: 042
     Dates: start: 20210308
  244. BENDAMUSTINE HYDROCHLORIDE [Suspect]
     Active Substance: BENDAMUSTINE HYDROCHLORIDE
     Dosage: UNK
  245. BENDAMUSTINE HYDROCHLORIDE MONOHYDRATE [Suspect]
     Active Substance: BENDAMUSTINE HYDROCHLORIDE MONOHYDRATE
     Indication: Follicular lymphoma
     Dosage: 180 MILLIGRAM
     Dates: start: 20210706
  246. BENDAMUSTINE HYDROCHLORIDE MONOHYDRATE [Suspect]
     Active Substance: BENDAMUSTINE HYDROCHLORIDE MONOHYDRATE
     Dosage: UNK
  247. BENDAMUSTINE HYDROCHLORIDE MONOHYDRATE [Suspect]
     Active Substance: BENDAMUSTINE HYDROCHLORIDE MONOHYDRATE
     Dosage: 180 MILLIGRAM, QD (CUMULATIVE DOSE TO FIRST REACTION: 22672.5 MG; 180 MG EVERY DAY (PHARMACEUTICAL D
     Dates: start: 20210308
  248. BENDAMUSTINE HYDROCHLORIDE MONOHYDRATE [Suspect]
     Active Substance: BENDAMUSTINE HYDROCHLORIDE MONOHYDRATE
     Dosage: 180 MILLIGRAM, QD (CUMULATIVE DOSE TO FIRST REACTION: 22672.5 MG; 180 MG EVERY DAY (PHARMACEUTICAL D
     Route: 042
     Dates: start: 20210308
  249. BENDAMUSTINE HYDROCHLORIDE MONOHYDRATE [Suspect]
     Active Substance: BENDAMUSTINE HYDROCHLORIDE MONOHYDRATE
     Dosage: UNK
  250. BENDAMUSTINE HYDROCHLORIDE MONOHYDRATE [Suspect]
     Active Substance: BENDAMUSTINE HYDROCHLORIDE MONOHYDRATE
     Dosage: 180 MILLIGRAM, QD (180 MG EVERY DAY (PHARMACEUTICAL DOSE FORM: 15)
     Dates: start: 20210308
  251. BENDAMUSTINE HYDROCHLORIDE MONOHYDRATE [Suspect]
     Active Substance: BENDAMUSTINE HYDROCHLORIDE MONOHYDRATE
     Dosage: 180 MILLIGRAM
     Dates: start: 20210706
  252. BENDAMUSTINE HYDROCHLORIDE MONOHYDRATE [Suspect]
     Active Substance: BENDAMUSTINE HYDROCHLORIDE MONOHYDRATE
     Dosage: 180 MILLIGRAM, QD (180 MG EVERY DAY (PHARMACEUTICAL DOSE FORM: 15)
     Route: 042
     Dates: start: 20210308
  253. CARBOPLATIN [Suspect]
     Active Substance: CARBOPLATIN
     Indication: Transitional cell carcinoma
     Dosage: 630 MILLIGRAM
     Route: 042
     Dates: start: 20200210
  254. CARBOPLATIN [Suspect]
     Active Substance: CARBOPLATIN
     Dosage: UNK
  255. CARBOPLATIN [Suspect]
     Active Substance: CARBOPLATIN
     Dosage: UNK
  256. CARBOPLATIN [Suspect]
     Active Substance: CARBOPLATIN
     Dosage: UNK
     Route: 042
  257. CARBOPLATIN [Suspect]
     Active Substance: CARBOPLATIN
     Dosage: UNK
  258. CARBOPLATIN [Suspect]
     Active Substance: CARBOPLATIN
     Dosage: 630 MILLIGRAM
     Route: 042
     Dates: start: 20210210
  259. CARBOPLATIN [Suspect]
     Active Substance: CARBOPLATIN
     Dosage: UNK
  260. CARBOPLATIN [Suspect]
     Active Substance: CARBOPLATIN
     Indication: Transitional cell carcinoma
     Dosage: 630 MG
     Route: 042
     Dates: start: 20200210
  261. CARBOPLATIN [Suspect]
     Active Substance: CARBOPLATIN
     Indication: Transitional cell carcinoma
     Dosage: UNK
  262. CARBOPLATIN [Suspect]
     Active Substance: CARBOPLATIN
     Dosage: UNK
     Route: 042
  263. CARBOPLATIN [Suspect]
     Active Substance: CARBOPLATIN
     Dosage: UNK
  264. CARBOPLATIN [Suspect]
     Active Substance: CARBOPLATIN
     Dosage: UNK
  265. CARBOPLATIN [Suspect]
     Active Substance: CARBOPLATIN
     Dosage: 630 MILLIGRAM
     Route: 042
     Dates: start: 20210210
  266. DIHYDROCODEINE BITARTRATE [Suspect]
     Active Substance: DIHYDROCODEINE BITARTRATE
     Indication: Visual impairment
     Dosage: 1 DOSAGE FORMS DAILY;
  267. DIHYDROCODEINE BITARTRATE [Suspect]
     Active Substance: DIHYDROCODEINE BITARTRATE
     Indication: Visual impairment
     Dosage: 1 DOSAGE FORM, QD
  268. DIHYDROCODEINE BITARTRATE [Suspect]
     Active Substance: DIHYDROCODEINE BITARTRATE
     Dosage: 1 DOSAGE FORM, QD
  269. DIHYDROCODEINE BITARTRATE [Suspect]
     Active Substance: DIHYDROCODEINE BITARTRATE
     Dosage: 1 DOSAGE FORM, QD
  270. DIHYDROCODEINE BITARTRATE [Suspect]
     Active Substance: DIHYDROCODEINE BITARTRATE
     Dosage: 1 DOSAGE FORM, QD
  271. DIHYDROCODEINE BITARTRATE [Suspect]
     Active Substance: DIHYDROCODEINE BITARTRATE
     Dosage: 1 DOSAGE FORM, QD
  272. DIHYDROCODEINE BITARTRATE [Suspect]
     Active Substance: DIHYDROCODEINE BITARTRATE
     Dosage: UNK
  273. DIHYDROCODEINE BITARTRATE [Suspect]
     Active Substance: DIHYDROCODEINE BITARTRATE
     Indication: Visual impairment
     Dosage: 1 DOSAGE FORM, QD
  274. DIHYDROCODEINE BITARTRATE [Suspect]
     Active Substance: DIHYDROCODEINE BITARTRATE
     Dosage: 1 DOSAGE FORM, QD
  275. DIHYDROCODEINE BITARTRATE [Suspect]
     Active Substance: DIHYDROCODEINE BITARTRATE
     Dosage: 1 DOSAGE FORM, QD
  276. DIHYDROCODEINE BITARTRATE [Suspect]
     Active Substance: DIHYDROCODEINE BITARTRATE
     Dosage: 1 DOSAGE FORM, QD
  277. DIHYDROCODEINE BITARTRATE [Suspect]
     Active Substance: DIHYDROCODEINE BITARTRATE
     Dosage: 1 DOSAGE FORM, QD
  278. DIHYDROCODEINE BITARTRATE [Suspect]
     Active Substance: DIHYDROCODEINE BITARTRATE
     Dosage: 1 DOSAGE FORM, QD
  279. DIHYDROCODEINE BITARTRATE [Suspect]
     Active Substance: DIHYDROCODEINE BITARTRATE
     Dosage: 1 DOSAGE FORM, QD
  280. DIHYDROCODEINE BITARTRATE [Suspect]
     Active Substance: DIHYDROCODEINE BITARTRATE
     Dosage: UNK
  281. EPCORITAMAB [Suspect]
     Active Substance: EPCORITAMAB
     Indication: Follicular lymphoma
     Dosage: 0.16 MILLIGRAM, DAILY, PRIMING DOSE, SINGLE
     Route: 058
     Dates: start: 20210308, end: 20210308
  282. EPCORITAMAB [Suspect]
     Active Substance: EPCORITAMAB
     Dosage: 0.16 MILLIGRAM, DAILY, PRIMING DOSE, SINGLE (CUMULATIVE DOSE TO FIRST REACTION: 62.08 MG)
     Dates: start: 20210308, end: 20210308
  283. EPCORITAMAB [Suspect]
     Active Substance: EPCORITAMAB
     Dosage: 0.16 MILLIGRAM, DAILY, PRIMING DOSE, SINGLE
     Dates: start: 20210308, end: 20210308
  284. EPCORITAMAB [Suspect]
     Active Substance: EPCORITAMAB
     Dosage: 0.16 MILLIGRAM, DAILY, PRIMING DOSE, SINGLE
     Dates: start: 20210308, end: 20210308
  285. EPCORITAMAB [Suspect]
     Active Substance: EPCORITAMAB
     Dosage: 0.16 MILLIGRAM, DAILY, PRIMING DOSE, SINGLE
     Dates: start: 20210308, end: 20210308
  286. EPCORITAMAB [Suspect]
     Active Substance: EPCORITAMAB
     Dosage: 0.8 MILLIGRAM, DAILY, INTERMEDIATE DOSE, SINGLE
     Route: 058
     Dates: start: 20210315, end: 20210315
  287. EPCORITAMAB [Suspect]
     Active Substance: EPCORITAMAB
     Dosage: 0.8 MILLIGRAM, DAILY, INTERMEDIATE DOSE, SINGLE
     Route: 058
     Dates: start: 20210315, end: 20210315
  288. EPCORITAMAB [Suspect]
     Active Substance: EPCORITAMAB
     Dosage: 0.8 MILLIGRAM, DAILY, INTERMEDIATE DOSE, SINGLE (CUMULATIVE DOSE TO FIRST REACTION: 316.0 MG)
     Dates: start: 20210315, end: 20210315
  289. EPCORITAMAB [Suspect]
     Active Substance: EPCORITAMAB
     Dosage: 0.8 MILLIGRAM, DAILY, INTERMEDIATE DOSE, SINGLE
     Dates: start: 20210315, end: 20210315
  290. EPCORITAMAB [Suspect]
     Active Substance: EPCORITAMAB
     Dosage: 0.8 MILLIGRAM, DAILY,
     Dates: start: 20210315, end: 20210315
  291. EPCORITAMAB [Suspect]
     Active Substance: EPCORITAMAB
     Dosage: 24 MILLIGRAM, Q2WEEKS, FULL DOSE, CYCLE 4-9
     Route: 058
     Dates: start: 20210607
  292. EPCORITAMAB [Suspect]
     Active Substance: EPCORITAMAB
     Dosage: 24 MILLIGRAM, Q2WEEKS, FULL DOSE, CYCLE 4-9
     Dates: start: 20210607
  293. EPCORITAMAB [Suspect]
     Active Substance: EPCORITAMAB
     Dosage: 24 MILLIGRAM, Q2WEEKS, FULL DOSE, CYCLE 4-9
     Dates: start: 20210607
  294. EPCORITAMAB [Suspect]
     Active Substance: EPCORITAMAB
     Dosage: 24 MILLIGRAM, Q2WEEKS, FULL DOSE, CYCLE 4-9
     Dates: start: 20210607
  295. EPCORITAMAB [Suspect]
     Active Substance: EPCORITAMAB
     Dosage: 24 MILLIGRAM, Q2WEEKS, FULL DOSE, CYCLE 4-9
     Dates: start: 20210607
  296. EPCORITAMAB [Suspect]
     Active Substance: EPCORITAMAB
     Dosage: 24 MILLIGRAM, EVERY 1 WEEK, FULL DOSE, CYCLE 1-3
     Route: 058
     Dates: start: 20210322, end: 20210527
  297. EPCORITAMAB [Suspect]
     Active Substance: EPCORITAMAB
     Dosage: 24 MILLIGRAM, EVERY 1 WEEK, FULL DOSE, CYCLE 1-3
     Dates: start: 20210322, end: 20210527
  298. EPCORITAMAB [Suspect]
     Active Substance: EPCORITAMAB
     Dosage: 24 MILLIGRAM, EVERY 1 WEEK, FULL DOSE, CYCLE 1-3
     Dates: start: 20210322, end: 20210527
  299. EPCORITAMAB [Suspect]
     Active Substance: EPCORITAMAB
     Dosage: 24 MILLIGRAM, EVERY 1 WEEK, FULL DOSE, CYCLE 1-3
     Dates: start: 20210322, end: 20210527
  300. EPCORITAMAB [Suspect]
     Active Substance: EPCORITAMAB
     Dosage: 24 MILLIGRAM, EVERY 1 WEEK, FULL DOSE, CYCLE 1-3 (CUMULATIVE DOSE TO FIRST REACTION: 1378.2858 MG)
     Dates: start: 20210322, end: 20210527
  301. EPCORITAMAB [Suspect]
     Active Substance: EPCORITAMAB
     Dosage: 24 MILLIGRAM, BIWEEKLY(CUMULATIVE DOSE TO FIRST REACTION: 60.0 MG)
     Dates: start: 20210607
  302. EPCORITAMAB [Suspect]
     Active Substance: EPCORITAMAB
     Dosage: 0.16 MG, QD (CUMULATIVE DOSE TO FIRST REACTION: 20.153334 MG)
     Dates: start: 20210308
  303. EPCORITAMAB [Suspect]
     Active Substance: EPCORITAMAB
     Dosage: 0.8 MILLIGRAM, QD (CUMULATIVE DOSE TO FIRST REACTION: 316.0 MG)
     Dates: start: 20210315
  304. EPCORITAMAB [Suspect]
     Active Substance: EPCORITAMAB
     Dosage: 24 MILLIGRAM
     Dates: start: 20210322
  305. EPCORITAMAB [Suspect]
     Active Substance: EPCORITAMAB
     Dosage: 24MG,Q2W(24MG,Q2W, FULL DOSE,CYCLE 4-9) (CUMULATIVE DOSE TO FIRST REACTION: 821.0714 MG)
     Route: 058
     Dates: start: 20210607
  306. EPCORITAMAB [Suspect]
     Active Substance: EPCORITAMAB
     Dosage: 24MG,QW(24MG,EVERY 1WK,FULL DOSE,CYCLE 1-3)
     Route: 058
     Dates: start: 20210322, end: 20210527
  307. EPCORITAMAB [Suspect]
     Active Substance: EPCORITAMAB
     Dosage: 0.8 MILLIGRAM, QD (CUMULATIVE DOSE TO FIRST REACTION: 316.0 MG)
     Route: 058
     Dates: start: 20210315, end: 20210315
  308. EPCORITAMAB [Suspect]
     Active Substance: EPCORITAMAB
     Dosage: 24 MILLIGRAM, QWK, (24 MILLIGRAM, EVERY 1 WEEK, FULL DOSE, CYCLE 1-3)
     Route: 058
     Dates: start: 20210607
  309. EPCORITAMAB [Suspect]
     Active Substance: EPCORITAMAB
     Dosage: 24 MILLIGRAM, QWK, (24 MILLIGRAM, EVERY 1 WEEK, FULL DOSE, CYCLE 1-3)
     Route: 058
     Dates: start: 20210308, end: 20210308
  310. EPCORITAMAB [Suspect]
     Active Substance: EPCORITAMAB
     Dosage: 0.8 MILLIGRAM, QD; CUMULATIVE DOSE TO FIRST REACTION: 316.0 MG
     Route: 058
     Dates: start: 20210315, end: 20210315
  311. EPCORITAMAB [Suspect]
     Active Substance: EPCORITAMAB
     Dosage: 24 MILLIGRAM, QWK, (24 MILLIGRAM, EVERY 1 WEEK, FULL DOSE, CYCLE 1-3);CUMULATIVE DOSE TO FIRST REACT
     Route: 058
     Dates: start: 20210607
  312. EPCORITAMAB [Suspect]
     Active Substance: EPCORITAMAB
     Dosage: 24 MILLIGRAM, QWK, (24 MILLIGRAM, EVERY 1 WEEK, FULL DOSE, CYCLE 1-3); CUMULATIVE DOSE TO FIRST REAC
     Route: 058
     Dates: start: 20210308, end: 20210308
  313. EPCORITAMAB [Suspect]
     Active Substance: EPCORITAMAB
     Dosage: 24 MG, 2/WEEK (FULL DOSE, CYCLE1-3)
     Dates: start: 20210607
  314. EPCORITAMAB [Suspect]
     Active Substance: EPCORITAMAB
     Dosage: UNK
  315. EPCORITAMAB [Suspect]
     Active Substance: EPCORITAMAB
     Indication: Follicular lymphoma
     Dosage: 0.16 MILLIGRAM, QD(0.16 MILLIGRAM, DAILY, PRIMING DOSE, SINGLE)
     Route: 058
     Dates: start: 20210308, end: 20210308
  316. EPCORITAMAB [Suspect]
     Active Substance: EPCORITAMAB
     Dosage: 24 MILLIGRAM, BIWEEKLY; TO 24 MILLIGRAM, Q2WEEKS, FULL DOSE, CYCLE 4-9
     Route: 058
     Dates: start: 20210607
  317. EPCORITAMAB [Suspect]
     Active Substance: EPCORITAMAB
     Dosage: 24 MILLIGRAM
     Dates: start: 20210322
  318. EPCORITAMAB [Suspect]
     Active Substance: EPCORITAMAB
     Dosage: 24 MILLIGRAM,  QW(24 MILLIGRAM, EVERY 1 WEEK, FULL DOSE, CYCLE 1-3); 24 MILLIGRAM, EVERY 1 WEEK, FUL
     Route: 058
     Dates: start: 20210322, end: 20210527
  319. EPCORITAMAB [Suspect]
     Active Substance: EPCORITAMAB
     Dosage: 0.8 MILLIGRAM, QD (CUMULATIVE DOSE TO FIRST REACTION: 316.0 MG)
     Dates: start: 20210315
  320. EPCORITAMAB [Suspect]
     Active Substance: EPCORITAMAB
     Dosage: 0.8 MILLIGRAM, QD(0.8 MILLIGRAM, DAILY, INTERMEDIATE DOSE, SINGLE)
     Route: 058
     Dates: start: 20210315, end: 20210315
  321. EPCORITAMAB [Suspect]
     Active Substance: EPCORITAMAB
     Dosage: 0.16 MILLIGRAM, QD(0.16 MILLIGRAM, DAILY, PRIMING DOSE, SINGLE)
     Route: 058
     Dates: start: 20210308, end: 20210308
  322. EPCORITAMAB [Suspect]
     Active Substance: EPCORITAMAB
     Dosage: 24 MILLIGRAM, Q2W(24 MILLIGRAM, Q2WEEKS, FULL DOSE, CYCLE 4-9); 24MG,Q2W(24MG,Q2W, FULL DOSE,CYCLE 4
     Route: 058
     Dates: start: 20210607
  323. EPCORITAMAB [Suspect]
     Active Substance: EPCORITAMAB
     Dosage: UNK
  324. EPCORITAMAB [Suspect]
     Active Substance: EPCORITAMAB
     Dosage: 0.16 MILLIGRAM, QD(0.16 MILLIGRAM, DAILY, PRIMING DOSE, SINGLE)
     Route: 058
     Dates: start: 20210308, end: 20210308
  325. EPCORITAMAB [Suspect]
     Active Substance: EPCORITAMAB
     Dosage: 24 MILLIGRAM, Q2WEEKS, FULL DOSE, CYCLE 4-9
     Route: 058
     Dates: start: 20210607
  326. EPCORITAMAB [Suspect]
     Active Substance: EPCORITAMAB
     Dosage: 0.8 MILLIGRAM, QD
     Route: 058
     Dates: start: 20210315
  327. EPCORITAMAB [Suspect]
     Active Substance: EPCORITAMAB
     Dosage: (CUMULATIVE DOSE TO FIRST REACTION: 0.96 MG)
  328. EPCORITAMAB [Suspect]
     Active Substance: EPCORITAMAB
     Dosage: 24 MILLIGRAM, EVERY 1 WEEK, FULL DOSE, CYCLE 1-3
     Route: 058
     Dates: start: 20210322, end: 20210527
  329. EPCORITAMAB [Suspect]
     Active Substance: EPCORITAMAB
     Dosage: 24 MILLIGRAM, Q2WEEKS, FULL DOSE, CYCLE 4-9
     Route: 058
     Dates: start: 20210607
  330. EPCORITAMAB [Suspect]
     Active Substance: EPCORITAMAB
     Dosage: 24 MILLIGRAM, Q2WEEKS, FULL DOSE, CYCLE 4-9
     Route: 058
     Dates: start: 20210607
  331. EPCORITAMAB [Suspect]
     Active Substance: EPCORITAMAB
     Dosage: .8 MILLIGRAM DAILY;
     Route: 058
  332. EPCORITAMAB [Suspect]
     Active Substance: EPCORITAMAB
     Indication: Follicular lymphoma
     Dosage: 0.8 MILLIGRAM, QD
     Route: 058
     Dates: start: 20210315, end: 20210315
  333. EPCORITAMAB [Suspect]
     Active Substance: EPCORITAMAB
     Dosage: 24 MILLIGRAM, Q2WK (CUMULATIVE DOSE: 821.0714 MG)
     Route: 058
     Dates: start: 20210607
  334. EPCORITAMAB [Suspect]
     Active Substance: EPCORITAMAB
     Dosage: 0.16 MILLIGRAM, QD (CUMULATIVE DOSE: 62.08 MG)
     Route: 058
     Dates: start: 20210308, end: 20210308
  335. EPCORITAMAB [Suspect]
     Active Substance: EPCORITAMAB
     Dosage: 24 MILLIGRAM, QWK (CUMULATIVE DOSE: 1378.2858 MG)
     Route: 058
     Dates: start: 20210322, end: 20210527
  336. EPCORITAMAB [Suspect]
     Active Substance: EPCORITAMAB
     Dosage: 16 MG, 1/WEEK (CUMULATIVE DOSE: 886.8571 MG)
     Route: 058
     Dates: start: 20210308
  337. EPCORITAMAB [Suspect]
     Active Substance: EPCORITAMAB
     Dosage: 24 MILLIGRAM, Q2WK (CUMULATIVE DOSE: 821.0714 MG)
     Route: 058
     Dates: start: 20210607
  338. EPCORITAMAB [Suspect]
     Active Substance: EPCORITAMAB
     Dosage: 0.8 MILLIGRAM, QD  (CUMULATIVE DOSE: 316.0 MG)
     Route: 058
     Dates: start: 20210315, end: 20210315
  339. EPCORITAMAB [Suspect]
     Active Substance: EPCORITAMAB
     Dosage: UNK (CUMULATIVE DOSE: 0.96 MG)
  340. EPCORITAMAB [Suspect]
     Active Substance: EPCORITAMAB
     Dosage: UNK (CUMULATIVE DOSE: 0.96 MG)
  341. EPCORITAMAB [Suspect]
     Active Substance: EPCORITAMAB
     Dosage: .8 MILLIGRAM DAILY; (CUMULATIVE DOSE: 0.96 MG)
     Route: 058
  342. EPCORITAMAB [Suspect]
     Active Substance: EPCORITAMAB
     Dosage: UNK (CUMULATIVE DOSE: 0.96 MG)
  343. EPCORITAMAB [Suspect]
     Active Substance: EPCORITAMAB
     Dosage: 24 MILLIGRAM, BIWEEKLY
     Dates: start: 20210607
  344. EPCORITAMAB [Suspect]
     Active Substance: EPCORITAMAB
     Dosage: UNK (CUMULATIVE DOSE: 0.96 MG)
  345. EPCORITAMAB [Suspect]
     Active Substance: EPCORITAMAB
     Dosage: 24 MILLIGRAM
     Dates: start: 20210322
  346. EPCORITAMAB [Suspect]
     Active Substance: EPCORITAMAB
     Dosage: 24 MILLIGRAM WEEKLY (CYCLE1-3)
     Route: 058
     Dates: start: 20210322, end: 20210327
  347. EPCORITAMAB [Suspect]
     Active Substance: EPCORITAMAB
     Dosage: 24 MILLIGRAM, EVERY 1 WEEK, FULL DOSE, CYCLE 1-3
     Dates: start: 20210322, end: 20210527
  348. EPCORITAMAB [Suspect]
     Active Substance: EPCORITAMAB
     Dosage: 0.16 MILLIGRAM, QD(0.16 MILLIGRAM, DAILY, PRIMING DOSE, SINGLE)
     Route: 058
     Dates: start: 20210308, end: 20210308
  349. EPCORITAMAB [Suspect]
     Active Substance: EPCORITAMAB
     Dosage: 0.8 MILLIGRAM, DAILY, INTERMEDIATE DOSE, SINGLE
     Route: 058
  350. EPCORITAMAB [Suspect]
     Active Substance: EPCORITAMAB
     Dosage: 0.8 MILLIGRAM, QD
     Route: 058
  351. EPCORITAMAB [Suspect]
     Active Substance: EPCORITAMAB
     Dosage: 24 MILLIGRAM, Q2WEEKS, FULL DOSE, CYCLE 4-9
     Route: 058
  352. EPCORITAMAB [Suspect]
     Active Substance: EPCORITAMAB
     Dosage: 24 MILLIGRAM, Q2WEEKS, FULL DOSE, CYCLE 4-9
     Route: 058
     Dates: start: 20210607
  353. EPCORITAMAB [Suspect]
     Active Substance: EPCORITAMAB
     Dosage: 0.16 MILLIGRAM, DAILY, PRIMING DOSE, SINGLE
     Route: 058
     Dates: start: 20210308, end: 20210308
  354. EPCORITAMAB [Suspect]
     Active Substance: EPCORITAMAB
     Indication: Follicular lymphoma
     Dosage: UNK
  355. EPCORITAMAB [Suspect]
     Active Substance: EPCORITAMAB
     Dosage: 0.8 MILLIGRAM, DAILY, INTERMEDIATE DOSE, SINGLE
     Dates: start: 20210315, end: 20210315
  356. EPCORITAMAB [Suspect]
     Active Substance: EPCORITAMAB
     Dosage: 16 MILLIGRAM, QWK
     Route: 058
     Dates: start: 20210308
  357. EPCORITAMAB [Suspect]
     Active Substance: EPCORITAMAB
     Dosage: 24 MILLIGRAM, Q2WEEKS, FULL DOSE, CYCLE 4-9
     Dates: start: 20210607
  358. EPCORITAMAB [Suspect]
     Active Substance: EPCORITAMAB
     Dosage: 0.8 MILLIGRAM, QD
  359. EPCORITAMAB [Suspect]
     Active Substance: EPCORITAMAB
     Dosage: 0.16 MILLIGRAM, QD(0.16 MILLIGRAM, DAILY, PRIMING DOSE, SINGLE)
     Route: 058
     Dates: start: 20210308, end: 20210308
  360. EPCORITAMAB [Suspect]
     Active Substance: EPCORITAMAB
     Dosage: 24 MILLIGRAM, EVERY 1 WEEK, FULL DOSE, CYCLE 1-3
     Route: 058
     Dates: start: 20210322, end: 20210527
  361. EPCORITAMAB [Suspect]
     Active Substance: EPCORITAMAB
     Dosage: 0.16 MILLIGRAM, QD
     Route: 058
     Dates: start: 20210308, end: 20210308
  362. EPCORITAMAB [Suspect]
     Active Substance: EPCORITAMAB
     Dosage: 0.8 MILLIGRAM, DAILY
     Dates: start: 20210315, end: 20210315
  363. EPCORITAMAB [Suspect]
     Active Substance: EPCORITAMAB
     Dosage: .8 MILLIGRAM DAILY;
  364. EPCORITAMAB [Suspect]
     Active Substance: EPCORITAMAB
     Dosage: 24 MILLIGRAM, BIWEEKLY
     Route: 058
     Dates: start: 20210607
  365. EPCORITAMAB [Suspect]
     Active Substance: EPCORITAMAB
     Dosage: 24 MILLIGRAM
     Dates: start: 20210322, end: 20210527
  366. EPCORITAMAB [Suspect]
     Active Substance: EPCORITAMAB
     Dosage: 24 MILLIGRAM, Q2WEEKS, FULL DOSE, CYCLE 4-9
     Dates: start: 20210607
  367. EPCORITAMAB [Suspect]
     Active Substance: EPCORITAMAB
     Dosage: 0.8 MILLIGRAMG, QD
     Route: 058
     Dates: start: 20210315
  368. PACLITAXEL [Suspect]
     Active Substance: PACLITAXEL
     Indication: Transitional cell carcinoma
     Dosage: 378 MILLIGRAM
     Dates: start: 20200427
  369. PACLITAXEL [Suspect]
     Active Substance: PACLITAXEL
     Indication: Transitional cell carcinoma
     Dosage: 378 MILLIGRAM
     Dates: start: 20200427
  370. PACLITAXEL [Suspect]
     Active Substance: PACLITAXEL
     Dosage: 750 MG, Q4WK
  371. PACLITAXEL [Suspect]
     Active Substance: PACLITAXEL
     Dosage: UNK
  372. PACLITAXEL [Suspect]
     Active Substance: PACLITAXEL
     Dosage: UNK
  373. PACLITAXEL [Suspect]
     Active Substance: PACLITAXEL
     Indication: Transitional cell carcinoma
     Dosage: UNK
  374. PACLITAXEL [Suspect]
     Active Substance: PACLITAXEL
     Dosage: 378 MG
     Dates: start: 20200427
  375. PACLITAXEL [Suspect]
     Active Substance: PACLITAXEL
     Dosage: UNK
  376. PACLITAXEL [Suspect]
     Active Substance: PACLITAXEL
     Dosage: 750 MILLIGRAM, Q4WK
  377. ATEZOLIZUMAB [Suspect]
     Active Substance: ATEZOLIZUMAB
     Indication: Product used for unknown indication
     Dosage: 1200 MILLIGRAM, Q3WK
     Route: 042
  378. ATEZOLIZUMAB [Suspect]
     Active Substance: ATEZOLIZUMAB
     Dosage: 1200 MILLIGRAM
     Route: 042
  379. ATEZOLIZUMAB [Suspect]
     Active Substance: ATEZOLIZUMAB
     Dosage: 3600 MILLIGRAM, QWK
     Route: 042
  380. ATEZOLIZUMAB [Suspect]
     Active Substance: ATEZOLIZUMAB
     Dosage: 1200 MILLIGRAM, Q3WK
     Route: 042
  381. BENDAMUSTINE [Suspect]
     Active Substance: BENDAMUSTINE
     Indication: Product used for unknown indication
     Dosage: 180 MILLIGRAM, QD
     Dates: start: 20210706
  382. EPCORITAMAB [Suspect]
     Active Substance: EPCORITAMAB
     Indication: Product used for unknown indication
     Dosage: 0.16 MILLIGRAM, QD
     Route: 058
     Dates: start: 20210308
  383. EPCORITAMAB [Suspect]
     Active Substance: EPCORITAMAB
     Dosage: 24 MILLIGRAM, Q2WEEKS
     Route: 058
     Dates: start: 20210607
  384. EPCORITAMAB [Suspect]
     Active Substance: EPCORITAMAB
     Dosage: 48 MILLIGRAM, QWK,FULL DOSE, CYCLE 4-9
     Route: 058
     Dates: start: 20210607
  385. EPCORITAMAB [Suspect]
     Active Substance: EPCORITAMAB
     Dosage: 24 MILLIGRAM, QWK
     Route: 058
     Dates: start: 20210322
  386. EPCORITAMAB [Suspect]
     Active Substance: EPCORITAMAB
     Dosage: 16 MILLIGRAM, QWK
     Route: 058
     Dates: start: 20210308
  387. EPCORITAMAB [Suspect]
     Active Substance: EPCORITAMAB
     Dosage: 48 MILLIGRAM, QWK
     Route: 058
     Dates: start: 20210607
  388. EPCORITAMAB [Suspect]
     Active Substance: EPCORITAMAB
     Dosage: 24 MILLIGRAM, QWK
     Route: 058
     Dates: start: 20210322
  389. ACYCLOVIR [Concomitant]
     Active Substance: ACYCLOVIR
     Dosage: DOSE: 3, 1 DAY; (0.33/DAY)
     Route: 065
     Dates: start: 20200402, end: 20200404
  390. ACYCLOVIR [Concomitant]
     Active Substance: ACYCLOVIR
     Dosage: 0.33/DAY
     Dates: start: 20200402, end: 20200404
  391. ACYCLOVIR [Concomitant]
     Active Substance: ACYCLOVIR
     Dosage: DOSE: 3, 1 DAY; (0.33/DAY)
     Dates: start: 20200402, end: 20200404
  392. ACYCLOVIR [Concomitant]
     Active Substance: ACYCLOVIR
     Dosage: UNK
  393. ACYCLOVIR [Concomitant]
     Active Substance: ACYCLOVIR
     Dosage: UNK (0.33/DAY)
     Dates: start: 20200402, end: 20200404
  394. ACYCLOVIR [Concomitant]
     Active Substance: ACYCLOVIR
     Dosage: 0.33 UNK, QD
  395. ACYCLOVIR [Concomitant]
     Active Substance: ACYCLOVIR
     Dosage: UNK, TID (0.33 DAY)
     Dates: start: 20200402, end: 20200404
  396. ACYCLOVIR [Concomitant]
     Active Substance: ACYCLOVIR
     Dosage: UNK
     Dates: start: 20200402, end: 20200404
  397. AMOXICILLIN TRIHYDRATE [Concomitant]
     Active Substance: AMOXICILLIN
     Indication: Product used for unknown indication
  398. AMOXICILLIN TRIHYDRATE [Concomitant]
     Active Substance: AMOXICILLIN
     Dosage: UNK
  399. AMOXICILLIN TRIHYDRATE [Concomitant]
     Active Substance: AMOXICILLIN
     Dosage: UNK
  400. ANTACID [Concomitant]
     Active Substance: ALUMINUM HYDROXIDE\CALCIUM CARBONATE\DIMETHICONE\MAGNESIUM HYDROXIDE
     Indication: Mucosal inflammation
     Dosage: 1 UNK, BID
     Dates: start: 20200221
  401. ANTACID [Concomitant]
     Active Substance: ALUMINUM HYDROXIDE\CALCIUM CARBONATE\DIMETHICONE\MAGNESIUM HYDROXIDE
     Dosage: UNK UNK, BID
     Dates: start: 20200221
  402. BIOCLAVID [Concomitant]
     Active Substance: AMOXICILLIN\CLAVULANIC ACID
  403. HYDROCORTISONE\MICONAZOLE NITRATE [Concomitant]
     Active Substance: HYDROCORTISONE\MICONAZOLE NITRATE
     Dosage: UNK
     Dates: start: 20210715
  404. BUTYLSCOPOLAMINE BROMIDE [Concomitant]
     Active Substance: BUTYLSCOPOLAMINE BROMIDE
     Indication: Pain
     Dosage: .5 ABSENT 0.5 ABSENT
     Dates: start: 20200214, end: 20200222
  405. BUTYLSCOPOLAMINE BROMIDE [Concomitant]
     Active Substance: BUTYLSCOPOLAMINE BROMIDE
     Dosage: UNK
     Dates: start: 20200214, end: 20200222
  406. BUTYLSCOPOLAMINE BROMIDE [Concomitant]
     Active Substance: BUTYLSCOPOLAMINE BROMIDE
     Dosage: UNK, BID
     Dates: start: 20200214, end: 20200222
  407. BUTYLSCOPOLAMINE BROMIDE [Concomitant]
     Active Substance: BUTYLSCOPOLAMINE BROMIDE
     Dosage: UNK
  408. BUTYLSCOPOLAMINE BROMIDE [Concomitant]
     Active Substance: BUTYLSCOPOLAMINE BROMIDE
     Dosage: UNK
     Dates: start: 20200215, end: 20200222
  409. CALCIUM [Concomitant]
     Active Substance: CALCIUM
     Indication: Product used for unknown indication
     Dosage: UNK
     Dates: start: 20210504
  410. CALCIUM [Concomitant]
     Active Substance: CALCIUM
     Dosage: UNK
     Dates: start: 20210504
  411. CALCIUM [Concomitant]
     Active Substance: CALCIUM
     Dosage: UNK
  412. CEFUROXIME [Concomitant]
     Active Substance: CEFUROXIME
     Indication: Product used for unknown indication
     Dosage: UNK
     Dates: start: 20210509
  413. CEFUROXIME [Concomitant]
     Active Substance: CEFUROXIME
     Dosage: UNK
  414. CEFUROXIME [Concomitant]
     Active Substance: CEFUROXIME
     Dosage: UNK
  415. CEFUROXIME [Concomitant]
     Active Substance: CEFUROXIME
     Dosage: UNK
  416. CEFUROXIME [Concomitant]
     Active Substance: CEFUROXIME
     Dosage: UNK
  417. CHLORHEXIDINE [Concomitant]
     Active Substance: CHLORHEXIDINE
     Indication: Hiatus hernia
     Dosage: UNK
  418. CHLORHEXIDINE [Concomitant]
     Active Substance: CHLORHEXIDINE
     Dosage: UNK
  419. CHLORHEXIDINE [Concomitant]
     Active Substance: CHLORHEXIDINE
     Dosage: UNK
  420. CHLORHEXIDINE [Concomitant]
     Active Substance: CHLORHEXIDINE
     Dosage: UNK
  421. CHLORHEXIDINE [Concomitant]
     Active Substance: CHLORHEXIDINE
     Dosage: UNK
  422. CHLORHEXIDINE [Concomitant]
     Active Substance: CHLORHEXIDINE
     Dosage: UNK
  423. CHLORHEXIDINE [Concomitant]
     Active Substance: CHLORHEXIDINE
     Dosage: UNK
  424. CHOLECALCIFEROL [Concomitant]
     Active Substance: CHOLECALCIFEROL
     Indication: Product used for unknown indication
     Dosage: UNK
     Route: 065
     Dates: start: 20210504
  425. CHOLECALCIFEROL [Concomitant]
     Active Substance: CHOLECALCIFEROL
     Dosage: UNK
     Dates: start: 20210504
  426. CHOLECALCIFEROL [Concomitant]
     Active Substance: CHOLECALCIFEROL
     Dosage: UNK
  427. CLEMASTINE FUMARATE [Concomitant]
     Active Substance: CLEMASTINE FUMARATE
     Indication: Product used for unknown indication
     Dosage: UNK
     Route: 065
     Dates: start: 20210509
  428. CLEMASTINE FUMARATE [Concomitant]
     Active Substance: CLEMASTINE FUMARATE
     Dosage: UNK
     Dates: start: 20210509
  429. CLEMASTINE FUMARATE [Concomitant]
     Active Substance: CLEMASTINE FUMARATE
     Dosage: UNK
  430. CLEMASTINE FUMARATE [Concomitant]
     Active Substance: CLEMASTINE FUMARATE
     Dosage: UNK
  431. CLEMASTINE FUMARATE [Concomitant]
     Active Substance: CLEMASTINE FUMARATE
     Dosage: UNK
     Route: 065
     Dates: start: 20210509
  432. DAPSONE [Concomitant]
     Active Substance: DAPSONE
     Indication: Headache
     Dosage: UNK
  433. DAPSONE [Concomitant]
     Active Substance: DAPSONE
     Dosage: UNK
  434. DAPSONE [Concomitant]
     Active Substance: DAPSONE
     Dosage: DOSE: 1; UNK UNK, QD
     Dates: start: 20210625
  435. DAPSONE [Concomitant]
     Active Substance: DAPSONE
     Dosage: UNK, QD
     Dates: start: 20210625
  436. DAPSONE [Concomitant]
     Active Substance: DAPSONE
     Dosage: UNK UNK, QD
     Dates: start: 20210625
  437. DAPSONE [Concomitant]
     Active Substance: DAPSONE
     Dosage: UNK UNK, QD
     Dates: start: 20200625
  438. DEXAMETHASONE [Concomitant]
     Active Substance: DEXAMETHASONE
     Indication: Headache
     Dosage: UNK, QD (DOSE: 1, EVERY 1 DAY)
     Dates: start: 20200625
  439. DEXAMETHASONE [Concomitant]
     Active Substance: DEXAMETHASONE
     Dosage: UNK QD
     Dates: start: 20200625
  440. DEXAMETHASONE [Concomitant]
     Active Substance: DEXAMETHASONE
     Dosage: DOSE: 1UNK UNK, QD
     Dates: start: 20200625
  441. FLUTICASONE FUROATE [Concomitant]
     Active Substance: FLUTICASONE FUROATE
     Indication: Product used for unknown indication
     Dosage: UNK
     Dates: start: 20210708
  442. FLUTICASONE FUROATE [Concomitant]
     Active Substance: FLUTICASONE FUROATE
     Dosage: UNK
     Dates: start: 20210708
  443. FLUTICASONE FUROATE [Concomitant]
     Active Substance: FLUTICASONE FUROATE
     Dosage: UNK
     Dates: start: 20210708
  444. FLUTICASONE FUROATE [Concomitant]
     Active Substance: FLUTICASONE FUROATE
     Dosage: UNK
     Dates: start: 20210708
  445. FLUTICASONE FUROATE [Concomitant]
     Active Substance: FLUTICASONE FUROATE
     Dosage: UNK
     Dates: start: 20210708
  446. FLUTICASONE FUROATE [Concomitant]
     Active Substance: FLUTICASONE FUROATE
     Dosage: UNK
     Dates: start: 20210708
  447. FLUTICASONE FUROATE [Concomitant]
     Active Substance: FLUTICASONE FUROATE
     Dosage: UNK
     Dates: start: 20210708
  448. FLUTICASONE FUROATE [Concomitant]
     Active Substance: FLUTICASONE FUROATE
     Dosage: UNK
  449. FLUTICASONE FUROATE [Concomitant]
     Active Substance: FLUTICASONE FUROATE
     Dosage: UNK
  450. GELCLAIR [HYALURONATE SODIUM;POVIDONE] [Concomitant]
     Indication: Product used for unknown indication
     Dosage: UNK
     Dates: start: 20200407, end: 20200409
  451. GELCLAIR [HYALURONATE SODIUM;POVIDONE] [Concomitant]
     Dosage: UNK
     Dates: start: 20200407, end: 20200409
  452. GELCLAIR [HYALURONATE SODIUM;POVIDONE] [Concomitant]
     Dosage: UNK
  453. Gelclair [Concomitant]
     Indication: Product used for unknown indication
     Dosage: UNK
     Dates: start: 20200407, end: 20200409
  454. Gelclair [Concomitant]
     Dosage: UNK
     Dates: start: 20200407, end: 20200409
  455. Gelclair [Concomitant]
     Dosage: UNK
     Dates: start: 20200407, end: 20200409
  456. HYDROCORTISONE [Concomitant]
     Active Substance: HYDROCORTISONE
     Indication: Product used for unknown indication
     Dosage: UNK
     Dates: start: 20210715
  457. HYDROCORTISONE [Concomitant]
     Active Substance: HYDROCORTISONE
     Dosage: UNK
     Dates: start: 20210715
  458. HYDROCORTISONE [Concomitant]
     Active Substance: HYDROCORTISONE
     Dosage: UNK
     Dates: start: 20210715
  459. HYDROCORTISONE [Concomitant]
     Active Substance: HYDROCORTISONE
     Dosage: UNK
  460. HYDROCORTISONE [Concomitant]
     Active Substance: HYDROCORTISONE
     Dosage: UNK
     Dates: start: 20210715
  461. HYDROCORTISONE [Concomitant]
     Active Substance: HYDROCORTISONE
     Dosage: UNK
     Dates: start: 20210715
  462. HYDROCORTISONE [Concomitant]
     Active Substance: HYDROCORTISONE
     Dosage: UNK
     Dates: start: 20210715
  463. HYDROCORTISONE [Concomitant]
     Active Substance: HYDROCORTISONE
     Dosage: UNK
     Dates: start: 20210715
  464. BUTYLSCOPOLAMINE BROMIDE [Concomitant]
     Active Substance: BUTYLSCOPOLAMINE BROMIDE
     Indication: Product used for unknown indication
     Dosage: UNK
  465. BUTYLSCOPOLAMINE BROMIDE [Concomitant]
     Active Substance: BUTYLSCOPOLAMINE BROMIDE
     Dosage: UNK
  466. BUTYLSCOPOLAMINE BROMIDE [Concomitant]
     Active Substance: BUTYLSCOPOLAMINE BROMIDE
     Dosage: UNK
  467. BUTYLSCOPOLAMINE BROMIDE [Concomitant]
     Active Substance: BUTYLSCOPOLAMINE BROMIDE
     Dosage: UNK
  468. KALIUMKLORID [Concomitant]
     Dosage: UNK
     Route: 065
     Dates: start: 20210308
  469. LANSOPRAZOLE [Concomitant]
     Active Substance: LANSOPRAZOLE
     Indication: Product used for unknown indication
     Dosage: UNK
  470. LANSOPRAZOLE [Concomitant]
     Active Substance: LANSOPRAZOLE
     Dosage: UNK
  471. LANSOPRAZOLE [Concomitant]
     Active Substance: LANSOPRAZOLE
     Dosage: UNK
  472. LANSOPRAZOLE [Concomitant]
     Active Substance: LANSOPRAZOLE
     Dosage: UNK
  473. LANSOPRAZOLE [Concomitant]
     Active Substance: LANSOPRAZOLE
  474. LANSOPRAZOLE [Concomitant]
     Active Substance: LANSOPRAZOLE
     Dosage: UNK
  475. LANSOPRAZOLE [Concomitant]
     Active Substance: LANSOPRAZOLE
     Dosage: UNK
  476. LANSOPRAZOLE [Concomitant]
     Active Substance: LANSOPRAZOLE
     Dosage: UNK
  477. LOPERAMIDE [Concomitant]
     Active Substance: LOPERAMIDE
     Indication: Pain
     Dosage: UNK
     Route: 065
     Dates: start: 20210518
  478. LOPERAMIDE [Concomitant]
     Active Substance: LOPERAMIDE
     Dosage: UNK
     Dates: start: 20210518
  479. LOPERAMIDE [Concomitant]
     Active Substance: LOPERAMIDE
     Dosage: UNK
  480. LOPERAMIDE [Concomitant]
     Active Substance: LOPERAMIDE
     Dosage: UNK
     Dates: start: 20120823
  481. LOPERAMIDE [Concomitant]
     Active Substance: LOPERAMIDE
     Dosage: UNK
     Dates: start: 20200214
  482. METOCLOPRAMIDE [Concomitant]
     Active Substance: METOCLOPRAMIDE
     Indication: Pain
     Dosage: UNK
     Route: 065
     Dates: start: 20210509
  483. METOCLOPRAMIDE [Concomitant]
     Active Substance: METOCLOPRAMIDE
     Indication: Product used for unknown indication
     Dosage: UNK
     Dates: start: 20210509
  484. METOCLOPRAMIDE [Concomitant]
     Active Substance: METOCLOPRAMIDE
     Dosage: DOSE: 3, 1 DAY; [0.33/DAY]
     Dates: start: 20200214, end: 20200222
  485. METOCLOPRAMIDE [Concomitant]
     Active Substance: METOCLOPRAMIDE
     Dosage: UNK UNK, TID (DOSE: 3, EVERY 1 DAY)
     Dates: start: 20200214, end: 20200222
  486. METOCLOPRAMIDE [Concomitant]
     Active Substance: METOCLOPRAMIDE
     Dosage: UNK, TID
     Dates: start: 20200214, end: 20200220
  487. METOCLOPRAMIDE [Concomitant]
     Active Substance: METOCLOPRAMIDE
     Dosage: 0.33/DAY
     Dates: start: 20200214, end: 20200222
  488. METOCLOPRAMIDE [Concomitant]
     Active Substance: METOCLOPRAMIDE
     Dosage: UNK, TID
     Dates: start: 20200214, end: 20200220
  489. METOCLOPRAMIDE [Concomitant]
     Active Substance: METOCLOPRAMIDE
     Dosage: UNK
     Dates: start: 20210509
  490. METOCLOPRAMIDE [Concomitant]
     Active Substance: METOCLOPRAMIDE
     Dosage: UNK
     Dates: start: 20210509
  491. METOCLOPRAMIDE [Concomitant]
     Active Substance: METOCLOPRAMIDE
     Dosage: UNK
     Dates: start: 20210509
  492. METOCLOPRAMIDE [Concomitant]
     Active Substance: METOCLOPRAMIDE
     Dosage: UNK
     Dates: start: 20210509
  493. METOCLOPRAMIDE [Concomitant]
     Active Substance: METOCLOPRAMIDE
     Dosage: UNK
     Dates: start: 20210509
  494. METOCLOPRAMIDE [Concomitant]
     Active Substance: METOCLOPRAMIDE
     Dosage: UNK
  495. METOCLOPRAMIDE [Concomitant]
     Active Substance: METOCLOPRAMIDE
     Dosage: 0.33 UNK, QD
     Dates: start: 20200214, end: 20200222
  496. METOCLOPRAMIDE [Concomitant]
     Active Substance: METOCLOPRAMIDE
     Dosage: UNK
     Dates: start: 20210509
  497. METOCLOPRAMIDE [Concomitant]
     Active Substance: METOCLOPRAMIDE
     Dosage: UNK
     Dates: start: 20210509
  498. METOCLOPRAMIDE [Concomitant]
     Active Substance: METOCLOPRAMIDE
     Dosage: UNK, TID (0.33 DAY)
     Dates: start: 20200214, end: 20200222
  499. METOCLOPRAMIDE [Concomitant]
     Active Substance: METOCLOPRAMIDE
     Dosage: UNK, TID (0.33 DAY)
     Dates: start: 20200214, end: 20200220
  500. METOCLOPRAMIDE [Concomitant]
     Active Substance: METOCLOPRAMIDE
     Dosage: UNK
  501. METOCLOPRAMIDE [Concomitant]
     Active Substance: METOCLOPRAMIDE
     Dosage: UNK
     Dates: start: 20200214, end: 20200220
  502. METOCLOPRAMIDE;ONDANSETRON [Concomitant]
     Dosage: UNK
     Dates: start: 20210509
  503. MICONAZOLE NITRATE [Concomitant]
     Active Substance: MICONAZOLE NITRATE
     Indication: Product used for unknown indication
     Dosage: UNK
     Route: 065
     Dates: start: 20210715
  504. MICONAZOLE NITRATE [Concomitant]
     Active Substance: MICONAZOLE NITRATE
     Dosage: UNK
     Dates: start: 20210715
  505. MICONAZOLE NITRATE [Concomitant]
     Active Substance: MICONAZOLE NITRATE
     Dosage: UNK
     Dates: start: 20210715
  506. MICONAZOLE NITRATE [Concomitant]
     Active Substance: MICONAZOLE NITRATE
     Dosage: UNK
     Dates: start: 20210715
  507. MICONAZOLE NITRATE [Concomitant]
     Active Substance: MICONAZOLE NITRATE
     Dosage: UNK
     Dates: start: 20210715
  508. MICONAZOLE NITRATE [Concomitant]
     Active Substance: MICONAZOLE NITRATE
     Dosage: UNK
     Dates: start: 20210715
  509. MICONAZOLE NITRATE [Concomitant]
     Active Substance: MICONAZOLE NITRATE
     Dosage: UNK
  510. MICONAZOLE NITRATE [Concomitant]
     Active Substance: MICONAZOLE NITRATE
     Dosage: UNK
     Dates: start: 20210715
  511. MICONAZOLE NITRATE [Concomitant]
     Active Substance: MICONAZOLE NITRATE
     Dosage: UNK
     Dates: start: 20210715
  512. MORPHINE SULFATE [Concomitant]
     Active Substance: MORPHINE SULFATE
     Indication: Product used for unknown indication
     Dosage: UNK
  513. MORPHINE SULFATE [Concomitant]
     Active Substance: MORPHINE SULFATE
     Dosage: UNK
  514. NITROFURANTOIN [Concomitant]
     Active Substance: NITROFURANTOIN
     Indication: Hiatus hernia
     Dosage: DOSE: 1, 1 DAY
     Dates: start: 20200204
  515. NITROFURANTOIN [Concomitant]
     Active Substance: NITROFURANTOIN
     Dosage: UNK UNK, QD (DOSE: 1, EVERY 1 DAY)
     Dates: start: 20200204
  516. NITROFURANTOIN [Concomitant]
     Active Substance: NITROFURANTOIN
     Dosage: UNK UNK, QD
     Dates: start: 20200204
  517. NITROFURANTOIN [Concomitant]
     Active Substance: NITROFURANTOIN
     Dosage: UNK, QD
     Dates: start: 20200204
  518. ONDANSETRON [Concomitant]
     Active Substance: ONDANSETRON
     Indication: Product used for unknown indication
     Dosage: UNK
     Route: 065
     Dates: start: 20210509
  519. ONDANSETRON [Concomitant]
     Active Substance: ONDANSETRON
     Dosage: 8 MILLIGRAM (INITIATED-10-FEB-2022)
     Dates: start: 20220210, end: 20220210
  520. ONDANSETRON [Concomitant]
     Active Substance: ONDANSETRON
     Dosage: UNK
     Dates: start: 20210509
  521. ONDANSETRON [Concomitant]
     Active Substance: ONDANSETRON
     Dosage: UNK
  522. ONDANSETRON [Concomitant]
     Active Substance: ONDANSETRON
     Dosage: 8 MILLIGRAM
     Dates: start: 20220210, end: 20220210
  523. ORAMORPH SR SUSTAINED RELEASE [Concomitant]
     Active Substance: MORPHINE SULFATE
     Indication: Pain
     Dosage: UNK
  524. ORAMORPH SR SUSTAINED RELEASE [Concomitant]
     Active Substance: MORPHINE SULFATE
     Dosage: UNK
  525. ORAMORPH SR SUSTAINED RELEASE [Concomitant]
     Active Substance: MORPHINE SULFATE
     Dosage: UNK
  526. ORAMORPH SR SUSTAINED RELEASE [Concomitant]
     Active Substance: MORPHINE SULFATE
     Dosage: UNK
  527. ORAMORPH SR SUSTAINED RELEASE [Concomitant]
     Active Substance: MORPHINE SULFATE
     Dosage: UNK
  528. ORAMORPH SR SUSTAINED RELEASE [Concomitant]
     Active Substance: MORPHINE SULFATE
     Dosage: UNK
  529. OXETACAINE [Concomitant]
     Active Substance: OXETHAZAINE
     Indication: Mucosal inflammation
     Dosage: UNK
     Dates: start: 20200221
  530. OXETACAINE [Concomitant]
     Active Substance: OXETHAZAINE
     Dosage: UNK
     Dates: start: 20200221
  531. OXETACAINE [Concomitant]
     Active Substance: OXETHAZAINE
     Dosage: UNK
     Dates: start: 20200221
  532. OXETACAINE [Concomitant]
     Active Substance: OXETHAZAINE
     Dosage: UNK
     Dates: start: 20200221
  533. OXETACAINE [Concomitant]
     Active Substance: OXETHAZAINE
     Dosage: UNK
     Dates: start: 20200221
  534. OXETACAINE [Concomitant]
     Active Substance: OXETHAZAINE
     Dosage: UNK
     Dates: start: 20200221
  535. OXETACAINE [Concomitant]
     Active Substance: OXETHAZAINE
     Dosage: UNK
     Dates: start: 20200221
  536. ACETAMINOPHEN [Concomitant]
     Active Substance: ACETAMINOPHEN
     Indication: Pain
     Dosage: DOSE: 1, 1 AS NECESSARY
     Dates: start: 20210308
  537. ACETAMINOPHEN [Concomitant]
     Active Substance: ACETAMINOPHEN
     Dosage: UNK UNK, AS NECESSARY
  538. ACETAMINOPHEN [Concomitant]
     Active Substance: ACETAMINOPHEN
     Dosage: DOSE: 1, 1 AS NECESSARY
     Dates: start: 20210308
  539. ACETAMINOPHEN [Concomitant]
     Active Substance: ACETAMINOPHEN
     Dosage: UNK
     Dates: start: 20210308
  540. ACETAMINOPHEN [Concomitant]
     Active Substance: ACETAMINOPHEN
     Dosage: UNK
     Dates: start: 20210308
  541. ACETAMINOPHEN [Concomitant]
     Active Substance: ACETAMINOPHEN
     Dosage: UNK
  542. ACETAMINOPHEN [Concomitant]
     Active Substance: ACETAMINOPHEN
     Dosage: UNK, PRN
  543. ACETAMINOPHEN [Concomitant]
     Active Substance: ACETAMINOPHEN
     Dosage: UNK
     Dates: start: 20210708
  544. ACETAMINOPHEN [Concomitant]
     Active Substance: ACETAMINOPHEN
     Dosage: UNK UNK, AS NECESSARY
  545. ACETAMINOPHEN [Concomitant]
     Active Substance: ACETAMINOPHEN
     Dosage: AS NECESSARY
  546. ACETAMINOPHEN [Concomitant]
     Active Substance: ACETAMINOPHEN
     Dosage: UNK UNK, AS NECESSARY
  547. ACETAMINOPHEN [Concomitant]
     Active Substance: ACETAMINOPHEN
     Dosage: UNK UNK, AS NECESSARY
  548. ACETAMINOPHEN [Concomitant]
     Active Substance: ACETAMINOPHEN
     Dosage: UNK UNK, AS NECESSARY
  549. AMDINOCILLIN PIVOXIL [Concomitant]
     Active Substance: AMDINOCILLIN PIVOXIL
     Indication: Product used for unknown indication
     Dosage: UNK
  550. AMDINOCILLIN PIVOXIL [Concomitant]
     Active Substance: AMDINOCILLIN PIVOXIL
     Dosage: UNK
  551. AMDINOCILLIN PIVOXIL [Concomitant]
     Active Substance: AMDINOCILLIN PIVOXIL
     Dosage: UNK
  552. AMDINOCILLIN PIVOXIL [Concomitant]
     Active Substance: AMDINOCILLIN PIVOXIL
     Dosage: UNK
  553. AMDINOCILLIN PIVOXIL [Concomitant]
     Active Substance: AMDINOCILLIN PIVOXIL
     Dosage: UNK
  554. AMDINOCILLIN PIVOXIL [Concomitant]
     Active Substance: AMDINOCILLIN PIVOXIL
     Dosage: UNK
  555. AMDINOCILLIN PIVOXIL [Concomitant]
     Active Substance: AMDINOCILLIN PIVOXIL
     Dosage: UNK
  556. AMDINOCILLIN PIVOXIL [Concomitant]
     Active Substance: AMDINOCILLIN PIVOXIL
     Dosage: UNK
  557. AMDINOCILLIN PIVOXIL [Concomitant]
     Active Substance: AMDINOCILLIN PIVOXIL
     Dosage: UNK
  558. AMDINOCILLIN PIVOXIL [Concomitant]
     Active Substance: AMDINOCILLIN PIVOXIL
     Dosage: UNK
  559. AMDINOCILLIN PIVOXIL [Concomitant]
     Active Substance: AMDINOCILLIN PIVOXIL
     Dosage: UNK
  560. AMDINOCILLIN PIVOXIL [Concomitant]
     Active Substance: AMDINOCILLIN PIVOXIL
     Dosage: UNK
  561. AMDINOCILLIN PIVOXIL [Concomitant]
     Active Substance: AMDINOCILLIN PIVOXIL
     Dosage: UNK
  562. AMDINOCILLIN PIVOXIL [Concomitant]
     Active Substance: AMDINOCILLIN PIVOXIL
     Dosage: UNK
  563. AMDINOCILLIN PIVOXIL [Concomitant]
     Active Substance: AMDINOCILLIN PIVOXIL
     Dosage: UNK
  564. AMDINOCILLIN PIVOXIL [Concomitant]
     Active Substance: AMDINOCILLIN PIVOXIL
     Dosage: UNK
  565. POTASSIUM CHLORIDE [Concomitant]
     Active Substance: POTASSIUM CHLORIDE
     Indication: Product used for unknown indication
     Dosage: UNK
     Route: 065
     Dates: start: 20210308
  566. POTASSIUM CHLORIDE [Concomitant]
     Active Substance: POTASSIUM CHLORIDE
     Dosage: UNK
     Dates: start: 20210308
  567. POTASSIUM CHLORIDE [Concomitant]
     Active Substance: POTASSIUM CHLORIDE
     Dosage: UNK
     Dates: start: 20210308
  568. POTASSIUM CHLORIDE [Concomitant]
     Active Substance: POTASSIUM CHLORIDE
     Dosage: UNK
     Dates: start: 20210308
  569. POTASSIUM CHLORIDE [Concomitant]
     Active Substance: POTASSIUM CHLORIDE
     Dosage: UNK
     Dates: start: 20210308
  570. POTASSIUM CHLORIDE [Concomitant]
     Active Substance: POTASSIUM CHLORIDE
     Dosage: UNK
     Dates: start: 20210308
  571. POTASSIUM CHLORIDE [Concomitant]
     Active Substance: POTASSIUM CHLORIDE
     Dosage: UNK
     Dates: start: 20210712
  572. PRAMIPEXOLE [Concomitant]
     Active Substance: PRAMIPEXOLE
     Indication: Pain
     Dosage: UNK
     Route: 065
     Dates: start: 20120823
  573. PRAMIPEXOLE [Concomitant]
     Active Substance: PRAMIPEXOLE
     Dosage: UNK
     Route: 065
     Dates: start: 20120823
  574. PRAMIPEXOLE [Concomitant]
     Active Substance: PRAMIPEXOLE
     Dosage: UNK
     Route: 065
     Dates: start: 20120823
  575. PRAMIPEXOLE [Concomitant]
     Active Substance: PRAMIPEXOLE
     Dosage: UNK
  576. PRAMIPEXOLE [Concomitant]
     Active Substance: PRAMIPEXOLE
     Dosage: UNK
  577. PRAMIPEXOLE [Concomitant]
     Active Substance: PRAMIPEXOLE
     Dosage: UNK
  578. PRAMIPEXOLE [Concomitant]
     Active Substance: PRAMIPEXOLE
     Dosage: UNK
  579. ALBUTEROL [Concomitant]
     Active Substance: ALBUTEROL
     Indication: Product used for unknown indication
     Dosage: UNK
     Route: 065
     Dates: start: 20210708
  580. ALBUTEROL [Concomitant]
     Active Substance: ALBUTEROL
     Dosage: UNK
     Dates: start: 20210708
  581. ALBUTEROL [Concomitant]
     Active Substance: ALBUTEROL
     Dosage: UNK
  582. ALBUTEROL [Concomitant]
     Active Substance: ALBUTEROL
     Dosage: UNK
     Route: 065
  583. ALBUTEROL [Concomitant]
     Active Substance: ALBUTEROL
     Dosage: UNK
     Route: 065
  584. ALBUTEROL [Concomitant]
     Active Substance: ALBUTEROL
     Dosage: UNK
     Route: 065
  585. VILANTEROL TRIFENATATE [Concomitant]
     Active Substance: VILANTEROL TRIFENATATE
     Indication: Product used for unknown indication
     Dosage: UNK
     Route: 065
     Dates: start: 20210708
  586. VILANTEROL TRIFENATATE [Concomitant]
     Active Substance: VILANTEROL TRIFENATATE
     Dosage: UNK
     Dates: start: 20210708
  587. VILANTEROL TRIFENATATE [Concomitant]
     Active Substance: VILANTEROL TRIFENATATE
     Dosage: UNK
     Dates: start: 20210708
  588. VILANTEROL TRIFENATATE [Concomitant]
     Active Substance: VILANTEROL TRIFENATATE
     Dosage: UNK
     Dates: start: 20210708
  589. VILANTEROL TRIFENATATE [Concomitant]
     Active Substance: VILANTEROL TRIFENATATE
     Dosage: UNK
     Dates: start: 20210708
  590. VILANTEROL TRIFENATATE [Concomitant]
     Active Substance: VILANTEROL TRIFENATATE
     Dosage: UNK
     Dates: start: 20210708
  591. VILANTEROL TRIFENATATE [Concomitant]
     Active Substance: VILANTEROL TRIFENATATE
     Dosage: UNK
  592. VILANTEROL TRIFENATATE [Concomitant]
     Active Substance: VILANTEROL TRIFENATATE
     Dosage: UNK
     Dates: start: 20210708
  593. AMOXICILLIN\CLAVULANATE POTASSIUM [Concomitant]
     Active Substance: AMOXICILLIN\CLAVULANATE POTASSIUM
     Indication: Product used for unknown indication
     Dosage: UNK
  594. CLAVULANATE POTASSIUM [Concomitant]
     Active Substance: CLAVULANATE POTASSIUM
     Indication: Product used for unknown indication
     Dosage: UNK
  595. CLAVULANATE POTASSIUM [Concomitant]
     Active Substance: CLAVULANATE POTASSIUM
     Dosage: UNK
  596. CLAVULANATE POTASSIUM [Concomitant]
     Active Substance: CLAVULANATE POTASSIUM
     Dosage: UNK
  597. CLAVULANATE POTASSIUM [Concomitant]
     Active Substance: CLAVULANATE POTASSIUM
     Dosage: UNK
  598. CLAVULANATE POTASSIUM [Concomitant]
     Active Substance: CLAVULANATE POTASSIUM
     Dosage: UNK
  599. IMODIUM [Concomitant]
     Active Substance: LOPERAMIDE HYDROCHLORIDE
     Indication: Product used for unknown indication
     Dosage: UNK
  600. IMODIUM [Concomitant]
     Active Substance: LOPERAMIDE HYDROCHLORIDE
     Dosage: UNK
     Dates: start: 20210518
  601. OMEPRAZOLE [Concomitant]
     Active Substance: OMEPRAZOLE
     Indication: Product used for unknown indication
     Dosage: UNK
  602. OMEPRAZOLE [Concomitant]
     Active Substance: OMEPRAZOLE
     Dosage: UNK
  603. OMEPRAZOLE [Concomitant]
     Active Substance: OMEPRAZOLE
     Dosage: UNK
  604. PREDNISOLONE [Concomitant]
     Active Substance: PREDNISOLONE
     Indication: Product used for unknown indication
     Dosage: UNK
     Dates: start: 20210705, end: 20210705
  605. PREDNISOLONE [Concomitant]
     Active Substance: PREDNISOLONE
     Dosage: 100 MILLIGRAM
     Route: 048
     Dates: start: 20210511, end: 20210513
  606. PREDNISOLONE [Concomitant]
     Active Substance: PREDNISOLONE
     Dosage: UNK
     Dates: start: 20210309, end: 20210503
  607. PRAMIPEXOLE [Concomitant]
     Active Substance: PRAMIPEXOLE
     Indication: Product used for unknown indication
     Dosage: UNK
     Dates: start: 20120823
  608. CLEMASTINE FUMARATE [Concomitant]
     Active Substance: CLEMASTINE FUMARATE
     Dosage: UNK
     Dates: start: 20210509
  609. UNIKALK FORTE [Concomitant]
     Dosage: UNK
     Dates: start: 20210504
  610. VALGANCICLOVIR [Concomitant]
     Active Substance: VALGANCICLOVIR
     Indication: Product used for unknown indication
  611. ALBUTEROL [Concomitant]
     Active Substance: ALBUTEROL
     Dosage: UNK
     Dates: start: 20210708
  612. SOLU-MEDROL [Concomitant]
     Active Substance: METHYLPREDNISOLONE SODIUM SUCCINATE
     Dosage: UNK
     Dates: start: 20210308, end: 20210406
  613. CLAVULANIC ACID [Concomitant]
     Active Substance: CLAVULANIC ACID
     Indication: Prophylaxis
     Dosage: UNK
     Dates: start: 20210714, end: 20210715
  614. CLAVULANIC ACID [Concomitant]
     Active Substance: CLAVULANIC ACID
     Dosage: UNK
     Dates: start: 20210509
  615. POLYETHYLENE GLYCOL 3350 [Concomitant]
     Active Substance: POLYETHYLENE GLYCOL 3350
     Dosage: UNK
     Dates: start: 20210712
  616. POLYETHYLENE GLYCOL 3350 [Concomitant]
     Active Substance: POLYETHYLENE GLYCOL 3350
     Dosage: UNK
     Dates: start: 20210712
  617. POLYETHYLENE GLYCOL 3350 [Concomitant]
     Active Substance: POLYETHYLENE GLYCOL 3350
     Dosage: UNK
     Dates: start: 20210712
  618. PIPERACILLIN AND TAZOBACTAM [Concomitant]
     Active Substance: PIPERACILLIN SODIUM\TAZOBACTAM SODIUM
     Indication: Prophylaxis
     Dosage: UNK
     Dates: start: 20210713, end: 20210714
  619. TAZOBACTAM SODIUM [Concomitant]
     Active Substance: TAZOBACTAM SODIUM
     Indication: Prophylaxis
     Dosage: UNK
     Dates: start: 20210308
  620. TAZOBACTAM SODIUM [Concomitant]
     Active Substance: TAZOBACTAM SODIUM
     Dosage: UNK
     Dates: start: 20210308
  621. TAZOBACTAM SODIUM [Concomitant]
     Active Substance: TAZOBACTAM SODIUM
     Dosage: UNK
     Dates: start: 20210713, end: 20210714
  622. MICONAZOLE [Concomitant]
     Active Substance: MICONAZOLE
     Dosage: UNK
     Dates: start: 20210715, end: 20211004
  623. MICONAZOLE [Concomitant]
     Active Substance: MICONAZOLE
     Dosage: UNK
     Dates: start: 20210715, end: 20211004
  624. MICONAZOLE [Concomitant]
     Active Substance: MICONAZOLE
     Dosage: UNK
     Dates: start: 20210715, end: 20211004
  625. PRAMIPEXOLE [Concomitant]
     Active Substance: PRAMIPEXOLE
  626. METHYLPREDNISOLONE SODIUM SUCCINATE [Concomitant]
     Active Substance: METHYLPREDNISOLONE SODIUM SUCCINATE
     Indication: Product used for unknown indication
     Dosage: UNK
     Dates: start: 20210308, end: 20210406
  627. METHYLPREDNISOLONE SODIUM SUCCINATE [Concomitant]
     Active Substance: METHYLPREDNISOLONE SODIUM SUCCINATE
     Dosage: UNK
     Dates: start: 20210509
  628. SODIUM CHLORIDE [Concomitant]
     Active Substance: SODIUM CHLORIDE
     Dosage: UNK
     Dates: start: 20210712
  629. PIPERACILLIN SODIUM [Concomitant]
     Active Substance: PIPERACILLIN SODIUM
     Indication: Prophylaxis
     Dosage: UNK
     Dates: start: 20210713, end: 20210714
  630. PIPERACILLIN SODIUM [Concomitant]
     Active Substance: PIPERACILLIN SODIUM
     Dosage: UNK
     Dates: start: 20210713, end: 20210714
  631. AMOXICILLIN\CLAVULANATE POTASSIUM [Concomitant]
     Active Substance: AMOXICILLIN\CLAVULANATE POTASSIUM
  632. METHYLPREDNISOLONE [Concomitant]
     Active Substance: METHYLPREDNISOLONE
     Indication: Prophylaxis
     Dosage: UNK
     Dates: start: 20210308, end: 20210406
  633. METHYLPREDNISOLONE [Concomitant]
     Active Substance: METHYLPREDNISOLONE
     Dosage: UNK
     Dates: start: 20210406, end: 20210406
  634. METHYLPREDNISOLONE [Concomitant]
     Active Substance: METHYLPREDNISOLONE
     Dosage: 80 MG
     Dates: start: 20210308, end: 20210308
  635. METHYLPREDNISOLONE [Concomitant]
     Active Substance: METHYLPREDNISOLONE
     Dosage: 80 MG
     Dates: start: 20210308, end: 20210308
  636. METHYLPREDNISOLONE [Concomitant]
     Active Substance: METHYLPREDNISOLONE
     Dosage: 80 MG
     Dates: start: 20210406, end: 20210406
  637. SODIUM BICARBONATE [Concomitant]
     Active Substance: SODIUM BICARBONATE
     Dosage: UNK
     Dates: start: 20210712
  638. SODIUM BICARBONATE [Concomitant]
     Active Substance: SODIUM BICARBONATE
     Dosage: UNK
     Dates: start: 20210712
  639. AMOXICILLIN [Concomitant]
     Active Substance: AMOXICILLIN
  640. FUROSEMIDE [Concomitant]
     Active Substance: FUROSEMIDE
     Dosage: UNK
     Dates: start: 20210308
  641. ALLOPURINOL [Concomitant]
     Active Substance: ALLOPURINOL
     Dosage: UNK
     Dates: start: 20210308, end: 20210510
  642. LOSARTAN POTASSIUM [Concomitant]
     Active Substance: LOSARTAN POTASSIUM
     Dosage: UNK
     Dates: start: 20131122, end: 20210429
  643. SULFAMETHOXAZOLE\TRIMETHOPRIM [Concomitant]
     Active Substance: SULFAMETHOXAZOLE\TRIMETHOPRIM
     Dosage: UNK
     Dates: start: 20210308, end: 20210510
  644. Furix [Concomitant]
     Dosage: UNK
  645. TOCILIZUMAB [Concomitant]
     Active Substance: TOCILIZUMAB
     Dosage: UNK
     Dates: start: 20210427, end: 20210427
  646. NASONEX [Concomitant]
     Active Substance: MOMETASONE FUROATE
     Dosage: UNK
     Dates: start: 20210415, end: 20210509
  647. MORPHINE SULFATE [Concomitant]
     Active Substance: MORPHINE SULFATE
     Indication: Pain
     Dosage: UNK
  648. METOCLOPRAMIDE HYDROCHLORIDE [Concomitant]
     Active Substance: METOCLOPRAMIDE HYDROCHLORIDE
     Indication: Product used for unknown indication
  649. METOCLOPRAMIDE HYDROCHLORIDE [Concomitant]
     Active Substance: METOCLOPRAMIDE HYDROCHLORIDE
     Dosage: UNK
     Dates: start: 20210715
  650. SODIUM BICARBONATE [Concomitant]
     Active Substance: SODIUM BICARBONATE
     Indication: Product used for unknown indication
     Dosage: UNK
     Dates: start: 20210712
  651. CALCIUM\CHOLECALCIFEROL [Concomitant]
     Active Substance: CALCIUM\CHOLECALCIFEROL
     Indication: Product used for unknown indication
  652. CALCIUM\CHOLECALCIFEROL [Concomitant]
     Active Substance: CALCIUM\CHOLECALCIFEROL
     Indication: Product used for unknown indication
     Dosage: UNK
     Dates: start: 20210504
  653. VITAMIN D3 [Concomitant]
     Active Substance: CHOLECALCIFEROL
     Indication: Product used for unknown indication
     Dosage: UNK
     Dates: start: 20210504

REACTIONS (30)
  - Hydronephrosis [Unknown]
  - Blood creatinine increased [Unknown]
  - Abdominal pain [Recovered/Resolved]
  - Abdominal pain [Recovered/Resolved]
  - Abdominal pain [Recovered/Resolved]
  - Abdominal pain [Recovered/Resolved]
  - Abdominal pain [Recovered/Resolved]
  - Abdominal pain [Recovered/Resolved]
  - Abdominal pain [Recovered/Resolved]
  - Abdominal pain [Recovered/Resolved]
  - Abdominal pain [Not Recovered/Not Resolved]
  - Abdominal pain [Recovered/Resolved]
  - Abdominal pain [Recovered/Resolved]
  - Abdominal pain [Not Recovered/Not Resolved]
  - Constipation [Recovered/Resolved]
  - Constipation [Unknown]
  - Constipation [Recovered/Resolved]
  - Constipation [Recovered/Resolved]
  - Constipation [Unknown]
  - Constipation [Unknown]
  - Constipation [Unknown]
  - Diarrhoea [Recovered/Resolved]
  - Cytomegalovirus infection [Recovered/Resolved]
  - Sepsis [Unknown]
  - Product use in unapproved indication [Unknown]
  - Off label use [Unknown]
  - Product use issue [Unknown]
  - Product use issue [Unknown]
  - Off label use [Unknown]
  - Constipation [Recovered/Resolved]

NARRATIVE: CASE EVENT DATE: 20200212
